FAERS Safety Report 23809892 (Version 1)
Quarter: 2024Q2

REPORT INFORMATION
  Report Type: Spontaneous
  Country: DE (occurrence: DE)
  Receive Date: 20240502
  Receipt Date: 20240502
  Transmission Date: 20240715
  Serious: Yes (Life-Threatening, Hospitalization, Other)
  Sender: FDA-Public Use
  Company Number: DE-SANDOZ-SDZ2024DE044287

PATIENT
  Age: 77 Year
  Sex: Female

DRUGS (600)
  1. AMITRIPTYLINE [Suspect]
     Active Substance: AMITRIPTYLINE
     Indication: Cerebrovascular accident
     Route: 065
  2. AMITRIPTYLINE [Suspect]
     Active Substance: AMITRIPTYLINE
     Indication: Cerebrovascular accident
     Route: 065
  3. AMITRIPTYLINE HYDROCHLORIDE [Suspect]
     Active Substance: AMITRIPTYLINE HYDROCHLORIDE
     Indication: Product used for unknown indication
     Dosage: 5 MILLIGRAM, DAILY
     Route: 065
  4. AMITRIPTYLINE HYDROCHLORIDE [Suspect]
     Active Substance: AMITRIPTYLINE HYDROCHLORIDE
     Dosage: 50 MILLIGRAM, DAILY
     Route: 065
  5. AMITRIPTYLINE HYDROCHLORIDE [Suspect]
     Active Substance: AMITRIPTYLINE HYDROCHLORIDE
     Dosage: 6 MILLIGRAM, DAILY
     Route: 061
  6. AMITRIPTYLINE HYDROCHLORIDE [Suspect]
     Active Substance: AMITRIPTYLINE HYDROCHLORIDE
     Dosage: 60 MILLIGRAM, DAILY
     Route: 065
  7. AMITRIPTYLINE HYDROCHLORIDE [Suspect]
     Active Substance: AMITRIPTYLINE HYDROCHLORIDE
     Dosage: 650 MG, DAILY
     Route: 065
  8. AMITRIPTYLINE HYDROCHLORIDE [Suspect]
     Active Substance: AMITRIPTYLINE HYDROCHLORIDE
     Dosage: 650 MG UNK
     Route: 065
  9. AMITRIPTYLINE HYDROCHLORIDE [Suspect]
     Active Substance: AMITRIPTYLINE HYDROCHLORIDE
     Dosage: 50 GALLONS, DAILY
     Route: 065
  10. AMITRIPTYLINE HYDROCHLORIDE [Suspect]
     Active Substance: AMITRIPTYLINE HYDROCHLORIDE
     Dosage: UNK
     Route: 065
  11. AMLODIPINE [Suspect]
     Active Substance: AMLODIPINE BESYLATE
     Dosage: 0.5 DF, UNK
     Route: 065
  12. AMLODIPINE [Suspect]
     Active Substance: AMLODIPINE BESYLATE
     Dosage: 0.5 DF, UNK
     Route: 065
  13. AMLODIPINE [Suspect]
     Active Substance: AMLODIPINE BESYLATE
     Dosage: 0.5 MG, BID
     Route: 065
  14. AMLODIPINE [Suspect]
     Active Substance: AMLODIPINE BESYLATE
     Dosage: 1 DF, DAILY
     Route: 065
  15. AMLODIPINE [Suspect]
     Active Substance: AMLODIPINE BESYLATE
     Dosage: 1 DF, Q12H
     Route: 065
  16. AMLODIPINE [Suspect]
     Active Substance: AMLODIPINE BESYLATE
     Dosage: 1 DOSAGE FORM, EVERY 2 DAYS
     Route: 065
  17. AMLODIPINE [Suspect]
     Active Substance: AMLODIPINE BESYLATE
     Dosage: 1 DOSAGE FORM
     Route: 065
  18. AMLODIPINE [Suspect]
     Active Substance: AMLODIPINE BESYLATE
     Dosage: 16 MG, DAILY
     Route: 065
  19. AMLODIPINE [Suspect]
     Active Substance: AMLODIPINE BESYLATE
     Dosage: 16 MG, UNK
     Route: 065
  20. AMLODIPINE [Suspect]
     Active Substance: AMLODIPINE BESYLATE
     Indication: Product used for unknown indication
     Dosage: 18 MILLIGRAM, DAILY
     Route: 065
  21. AMLODIPINE [Suspect]
     Active Substance: AMLODIPINE BESYLATE
     Dosage: 1 DF, BID
     Route: 065
  22. AMLODIPINE [Suspect]
     Active Substance: AMLODIPINE BESYLATE
     Dosage: 2 DF, DAILY
     Route: 065
  23. AMLODIPINE [Suspect]
     Active Substance: AMLODIPINE BESYLATE
     Dosage: 2 DF, DAILY
     Route: 065
  24. AMLODIPINE [Suspect]
     Active Substance: AMLODIPINE BESYLATE
     Dosage: 2 DF, Q12H
     Route: 048
  25. AMLODIPINE [Suspect]
     Active Substance: AMLODIPINE BESYLATE
     Dosage: 2 DF, QOD
     Route: 065
  26. AMLODIPINE [Suspect]
     Active Substance: AMLODIPINE BESYLATE
     Dosage: 25 MG, UNK
     Route: 065
  27. AMLODIPINE [Suspect]
     Active Substance: AMLODIPINE BESYLATE
     Dosage: 360 MILLIGRAM, DAILY
     Route: 065
  28. AMLODIPINE [Suspect]
     Active Substance: AMLODIPINE BESYLATE
     Dosage: 200 MG, BID
     Route: 065
  29. AMLODIPINE [Suspect]
     Active Substance: AMLODIPINE BESYLATE
     Dosage: 5 MILLIGRAM, Q12H
     Route: 065
  30. AMLODIPINE [Suspect]
     Active Substance: AMLODIPINE BESYLATE
     Dosage: UNK, DAILY
     Route: 065
  31. AMLODIPINE [Suspect]
     Active Substance: AMLODIPINE BESYLATE
     Dosage: UNK
     Route: 048
  32. AMLODIPINE [Suspect]
     Active Substance: AMLODIPINE BESYLATE
     Dosage: UNK
     Route: 065
  33. AMLODIPINE [Suspect]
     Active Substance: AMLODIPINE BESYLATE
     Dosage: UNK
     Route: 065
  34. AMLODIPINE BESYLATE [Suspect]
     Active Substance: AMLODIPINE BESYLATE
     Dosage: 5 MG, DAILY
     Route: 065
  35. AMLODIPINE BESYLATE [Suspect]
     Active Substance: AMLODIPINE BESYLATE
     Dosage: 5 MG, DAILY
     Route: 065
  36. AMLODIPINE BESYLATE [Suspect]
     Active Substance: AMLODIPINE BESYLATE
     Dosage: 5 MG, DAILY
     Route: 065
  37. AMLODIPINE BESYLATE [Suspect]
     Active Substance: AMLODIPINE BESYLATE
     Indication: Product used for unknown indication
     Dosage: 5 MG, UNK
     Route: 065
  38. AMLODIPINE BESYLATE [Suspect]
     Active Substance: AMLODIPINE BESYLATE
     Dosage: 50 MILLIGRAM, DAILY
     Route: 065
  39. AMLODIPINE BESYLATE [Suspect]
     Active Substance: AMLODIPINE BESYLATE
     Dosage: UNK
     Route: 065
  40. AMLODIPINE BESYLATE [Suspect]
     Active Substance: AMLODIPINE BESYLATE
     Dosage: UNK
     Route: 065
  41. AMLODIPINE BESYLATE [Suspect]
     Active Substance: AMLODIPINE BESYLATE
     Dosage: UNK
     Route: 065
  42. AMLODIPINE BESYLATE [Suspect]
     Active Substance: AMLODIPINE BESYLATE
     Dosage: UNK
     Route: 065
  43. ACEBUTOLOL HYDROCHLORIDE [Suspect]
     Active Substance: ACEBUTOLOL HYDROCHLORIDE
     Indication: Product used for unknown indication
     Dosage: UNK
     Route: 065
  44. ACETAMINOPHEN [Suspect]
     Active Substance: ACETAMINOPHEN
     Dosage: 50 MG, QD
     Route: 065
  45. ACETAMINOPHEN [Suspect]
     Active Substance: ACETAMINOPHEN
     Dosage: 60 MG, PRN
     Route: 065
  46. ACETAMINOPHEN [Suspect]
     Active Substance: ACETAMINOPHEN
     Dosage: 600 MG, PRN
     Route: 065
  47. ACETAMINOPHEN [Suspect]
     Active Substance: ACETAMINOPHEN
     Dosage: 650 MG, QD
     Route: 065
  48. ACETAMINOPHEN [Suspect]
     Active Substance: ACETAMINOPHEN
     Indication: Angina pectoris
     Dosage: 650 MG, Q6H
     Route: 065
  49. ACETAMINOPHEN [Suspect]
     Active Substance: ACETAMINOPHEN
     Indication: Fibromyalgia
     Dosage: 650 MG UNK
     Route: 065
  50. ACETAMINOPHEN [Suspect]
     Active Substance: ACETAMINOPHEN
     Indication: Pain
     Dosage: 650 MG, PRN
     Route: 065
  51. ACETAMINOPHEN [Suspect]
     Active Substance: ACETAMINOPHEN
     Indication: Radioactive iodine therapy
     Dosage: UNK
     Route: 065
  52. ACETAMINOPHEN AND CAFFEINE [Suspect]
     Active Substance: ACETAMINOPHEN\CAFFEINE
     Indication: Product used for unknown indication
     Dosage: 2 DOSAGE FORM, 1 EVERY 24 DAYS
     Route: 065
  53. ACETAMINOPHEN AND CODEINE [Suspect]
     Active Substance: ACETAMINOPHEN\CODEINE PHOSPHATE
     Indication: Product used for unknown indication
     Dosage: UNK
     Route: 065
  54. ACETAMINOPHEN\CAFFEINE [Suspect]
     Active Substance: ACETAMINOPHEN\CAFFEINE
     Dosage: 1 DF, QD
     Route: 065
  55. ACETAMINOPHEN\CAFFEINE [Suspect]
     Active Substance: ACETAMINOPHEN\CAFFEINE
     Dosage: 18 MG, QD
     Route: 065
  56. ACETAMINOPHEN\CAFFEINE [Suspect]
     Active Substance: ACETAMINOPHEN\CAFFEINE
     Dosage: 18 MG
     Route: 065
  57. ACETAMINOPHEN\CAFFEINE [Suspect]
     Active Substance: ACETAMINOPHEN\CAFFEINE
     Dosage: 18 UG, QD
     Route: 065
  58. ACETAMINOPHEN\CAFFEINE [Suspect]
     Active Substance: ACETAMINOPHEN\CAFFEINE
     Dosage: 18 UG, QD
     Route: 065
  59. ACETAMINOPHEN\CAFFEINE [Suspect]
     Active Substance: ACETAMINOPHEN\CAFFEINE
     Dosage: 18 UG, QD
     Route: 065
  60. ACETAMINOPHEN\CAFFEINE [Suspect]
     Active Substance: ACETAMINOPHEN\CAFFEINE
     Dosage: 18 UG, UNK
     Route: 065
  61. ACETAMINOPHEN\CAFFEINE [Suspect]
     Active Substance: ACETAMINOPHEN\CAFFEINE
     Dosage: 18000 UG/H UNK
     Route: 065
  62. ACETAMINOPHEN\CAFFEINE [Suspect]
     Active Substance: ACETAMINOPHEN\CAFFEINE
     Dosage: UNK, QD
     Route: 065
  63. ACETAMINOPHEN\CAFFEINE [Suspect]
     Active Substance: ACETAMINOPHEN\CAFFEINE
     Indication: Product used for unknown indication
     Dosage: UNK
     Route: 048
  64. ACETAMINOSALOL\ASPIRIN\CAFFEINE [Suspect]
     Active Substance: ACETAMINOSALOL\ASPIRIN\CAFFEINE
     Dosage: 10 MG, DAILY
     Route: 065
  65. ACETAMINOSALOL\ASPIRIN\CAFFEINE [Suspect]
     Active Substance: ACETAMINOSALOL\ASPIRIN\CAFFEINE
     Dosage: 100 MG, DAILY
     Route: 065
  66. ACETAMINOSALOL\ASPIRIN\CAFFEINE [Suspect]
     Active Substance: ACETAMINOSALOL\ASPIRIN\CAFFEINE
     Indication: Product used for unknown indication
     Dosage: UNK
     Route: 065
  67. ASPIRIN [Suspect]
     Active Substance: ASPIRIN
     Dosage: 15 MG, DAILY
     Route: 048
  68. ASPIRIN [Suspect]
     Active Substance: ASPIRIN
     Dosage: 15 MG, DAILY
     Route: 065
  69. ASPIRIN [Suspect]
     Active Substance: ASPIRIN
     Dosage: 15 MG, DAILY
     Route: 065
  70. ASPIRIN [Suspect]
     Active Substance: ASPIRIN
     Dosage: 15 MG, UNK
     Route: 048
  71. ASPIRIN [Suspect]
     Active Substance: ASPIRIN
     Dosage: 15 MG, UNK
     Route: 065
  72. ASPIRIN [Suspect]
     Active Substance: ASPIRIN
     Dosage: 20 MG, DAILY
     Route: 048
  73. ASPIRIN [Suspect]
     Active Substance: ASPIRIN
     Dosage: 40 UNK,1 EVERY 1 DAY
     Route: 065
  74. ASPIRIN [Suspect]
     Active Substance: ASPIRIN
     Dosage: 40 MG, DAILY
     Route: 048
  75. ASPIRIN [Suspect]
     Active Substance: ASPIRIN
     Indication: Coronary artery disease
     Dosage: UNK
     Route: 048
  76. ASPIRIN [Suspect]
     Active Substance: ASPIRIN
     Dosage: UNK
     Route: 065
  77. ASPIRIN [Suspect]
     Active Substance: ASPIRIN
     Dosage: UNK
     Route: 065
  78. ACETAMINOPHEN\ASPIRIN\CAFFEINE [Suspect]
     Active Substance: ACETAMINOPHEN\ASPIRIN\CAFFEINE
     Dosage: 1500 MG, TID
     Route: 065
  79. ACETAMINOPHEN\ASPIRIN\CAFFEINE [Suspect]
     Active Substance: ACETAMINOPHEN\ASPIRIN\CAFFEINE
     Dosage: 500 MILLIGRAM, DAILY
     Route: 065
  80. ACETAMINOPHEN\ASPIRIN\CAFFEINE [Suspect]
     Active Substance: ACETAMINOPHEN\ASPIRIN\CAFFEINE
     Dosage: 500 MG, Q8H
     Route: 065
  81. ACETAMINOPHEN\ASPIRIN\CAFFEINE [Suspect]
     Active Substance: ACETAMINOPHEN\ASPIRIN\CAFFEINE
     Dosage: 500 MG, Q8H
     Route: 065
  82. ACETAMINOPHEN\ASPIRIN\CAFFEINE [Suspect]
     Active Substance: ACETAMINOPHEN\ASPIRIN\CAFFEINE
     Indication: Product used for unknown indication
     Dosage: UNK
     Route: 065
  83. ASPIRIN\DIPYRIDAMOLE [Suspect]
     Active Substance: ASPIRIN\DIPYRIDAMOLE
     Indication: Product used for unknown indication
     Dosage: 2 DOSAGE FORM, DAILY
     Route: 065
  84. HERBALS [Suspect]
     Active Substance: HERBALS
     Dosage: 1.667 MILLIGRAM
     Route: 048
  85. HERBALS [Suspect]
     Active Substance: HERBALS
     Dosage: 10 MG, 1 EVERY 1DAY
     Route: 048
  86. HERBALS [Suspect]
     Active Substance: HERBALS
     Dosage: 10 MG, 2 EVERY 2 DAYS
     Route: 065
  87. HERBALS [Suspect]
     Active Substance: HERBALS
     Dosage: 20 MG, DAILY
     Route: 048
  88. HERBALS [Suspect]
     Active Substance: HERBALS
     Dosage: 20 MG, Q12H
     Route: 048
  89. HERBALS [Suspect]
     Active Substance: HERBALS
     Dosage: 20 MG, Q12H
     Route: 048
  90. HERBALS [Suspect]
     Active Substance: HERBALS
     Dosage: 20 MG, Q12H
     Route: 065
  91. HERBALS [Suspect]
     Active Substance: HERBALS
     Dosage: 20 MILLIGRAM, 1 EVERY 2 DAY
     Route: 065
  92. HERBALS [Suspect]
     Active Substance: HERBALS
     Dosage: 20 MILLIGRAM
     Route: 048
  93. HERBALS [Suspect]
     Active Substance: HERBALS
     Dosage: 200 MG, Q12H
     Route: 048
  94. HERBALS [Suspect]
     Active Substance: HERBALS
     Dosage: 30 MILLIGRAM, DAILY
     Route: 065
  95. HERBALS [Suspect]
     Active Substance: HERBALS
     Dosage: 20 MG, BID
     Route: 065
  96. HERBALS [Suspect]
     Active Substance: HERBALS
     Dosage: 40 MG, QD
     Route: 048
  97. HERBALS [Suspect]
     Active Substance: HERBALS
     Dosage: 200 MILLIGRAM, 2 EVERY 1 DAYS
     Route: 065
  98. HERBALS [Suspect]
     Active Substance: HERBALS
     Indication: Product used for unknown indication
     Dosage: UNK
     Route: 048
  99. HERBALS [Suspect]
     Active Substance: HERBALS
     Dosage: UNK
     Route: 048
  100. HERBALS [Suspect]
     Active Substance: HERBALS
     Dosage: UNK
     Route: 065
  101. HERBALS [Suspect]
     Active Substance: HERBALS
     Dosage: UNK
     Route: 065
  102. HERBALS [Suspect]
     Active Substance: HERBALS
     Dosage: UNK
     Route: 065
  103. AGGRENOX [Suspect]
     Active Substance: ASPIRIN\DIPYRIDAMOLE
     Dosage: 1 DF, DAILY
     Route: 065
  104. AGGRENOX [Suspect]
     Active Substance: ASPIRIN\DIPYRIDAMOLE
     Indication: Arthritis
     Dosage: 2 DF, UNK
     Route: 065
  105. AGGRENOX [Suspect]
     Active Substance: ASPIRIN\DIPYRIDAMOLE
     Dosage: 650 MILLIGRAM, DAILY
     Route: 065
  106. AMBROXOL HYDROCHLORIDE\CLENBUTEROL [Suspect]
     Active Substance: AMBROXOL HYDROCHLORIDE\CLENBUTEROL
     Dosage: 620 MG, Q12H
     Route: 065
  107. AMBROXOL HYDROCHLORIDE\CLENBUTEROL [Suspect]
     Active Substance: AMBROXOL HYDROCHLORIDE\CLENBUTEROL
     Indication: Product used for unknown indication
     Dosage: UNK
     Route: 065
  108. AMINOPHYLLINE\BROMHEXINE\CHLORPHENIRAMINE [Suspect]
     Active Substance: AMINOPHYLLINE\BROMHEXINE\CHLORPHENIRAMINE
     Indication: Product used for unknown indication
     Route: 065
  109. AMINOPHYLLINE [Suspect]
     Active Substance: AMINOPHYLLINE
     Indication: Product used for unknown indication
     Dosage: UNK
     Route: 065
  110. AMITRIPTYLINE HYDROCHLORIDE\PERPHENAZINE [Suspect]
     Active Substance: AMITRIPTYLINE HYDROCHLORIDE\PERPHENAZINE
     Dosage: 50 MG, DAILY
     Route: 065
  111. AMITRIPTYLINE HYDROCHLORIDE\PERPHENAZINE [Suspect]
     Active Substance: AMITRIPTYLINE HYDROCHLORIDE\PERPHENAZINE
     Dosage: 60 MG, DAILY
     Route: 065
  112. AMITRIPTYLINE HYDROCHLORIDE\PERPHENAZINE [Suspect]
     Active Substance: AMITRIPTYLINE HYDROCHLORIDE\PERPHENAZINE
     Dosage: 600 MILLIGRAM, DAILY
     Route: 065
  113. AMITRIPTYLINE HYDROCHLORIDE\PERPHENAZINE [Suspect]
     Active Substance: AMITRIPTYLINE HYDROCHLORIDE\PERPHENAZINE
     Dosage: 600 MILLIGRAM
     Route: 065
  114. AMITRIPTYLINE HYDROCHLORIDE\PERPHENAZINE [Suspect]
     Active Substance: AMITRIPTYLINE HYDROCHLORIDE\PERPHENAZINE
     Indication: Product used for unknown indication
     Dosage: 650 MG, UNK
     Route: 065
  115. AMITRIPTYLINE HYDROCHLORIDE\PERPHENAZINE [Suspect]
     Active Substance: AMITRIPTYLINE HYDROCHLORIDE\PERPHENAZINE
     Dosage: UNK
     Route: 065
  116. AMITRIPTYLINE HYDROCHLORIDE\PERPHENAZINE [Suspect]
     Active Substance: AMITRIPTYLINE HYDROCHLORIDE\PERPHENAZINE
     Dosage: UNK
     Route: 065
  117. AMITRIPTYLINE HYDROCHLORIDE\PERPHENAZINE [Suspect]
     Active Substance: AMITRIPTYLINE HYDROCHLORIDE\PERPHENAZINE
     Dosage: UNK
     Route: 065
  118. AMLODIPINE BESYLATE [Suspect]
     Active Substance: AMLODIPINE BESYLATE
     Indication: Angina pectoris
     Dosage: 5 MG, DAILY
     Route: 065
  119. AMLODIPINE BESYLATE [Suspect]
     Active Substance: AMLODIPINE BESYLATE
     Indication: Chest pain
     Dosage: UNK
     Route: 065
  120. AMLODIPINE BESYLATE [Suspect]
     Active Substance: AMLODIPINE BESYLATE
     Indication: Coronary artery disease
     Dosage: UNK
     Route: 065
  121. AMLODIPINE BESYLATE [Suspect]
     Active Substance: AMLODIPINE BESYLATE
     Indication: Hypertension
     Dosage: UNK
     Route: 065
  122. AMLODIPINE\TELMISARTAN [Suspect]
     Active Substance: AMLODIPINE\TELMISARTAN
     Indication: Product used for unknown indication
     Dosage: UNK
     Route: 065
  123. AMLODIPINE MESYLATE [Suspect]
     Active Substance: AMLODIPINE MESYLATE
     Indication: Product used for unknown indication
     Dosage: 5 MG, DAILY
     Route: 065
  124. AMLODIPINE MESYLATE [Suspect]
     Active Substance: AMLODIPINE MESYLATE
     Dosage: 5 MG, DAILY
     Route: 065
  125. AMLODIPINE MESYLATE [Suspect]
     Active Substance: AMLODIPINE MESYLATE
     Dosage: 5 MG, DAILY
     Route: 065
  126. AMLODIPINE MESYLATE [Suspect]
     Active Substance: AMLODIPINE MESYLATE
     Dosage: 5 MG, DAILY
     Route: 065
  127. AMLODIPINE MESYLATE [Suspect]
     Active Substance: AMLODIPINE MESYLATE
     Dosage: 5 MG, DAILY
     Route: 065
  128. AMLODIPINE MESYLATE [Suspect]
     Active Substance: AMLODIPINE MESYLATE
     Dosage: 5 MG, DAILY
     Route: 065
  129. AMLODIPINE MESYLATE [Suspect]
     Active Substance: AMLODIPINE MESYLATE
     Dosage: 5 MG, DAILY
     Route: 065
  130. AMLODIPINE MESYLATE [Suspect]
     Active Substance: AMLODIPINE MESYLATE
     Dosage: 5 MG, DAILY
     Route: 065
  131. AMLODIPINE MESYLATE [Suspect]
     Active Substance: AMLODIPINE MESYLATE
     Dosage: 5 MG, DAILY
     Route: 065
  132. AMLODIPINE MESYLATE [Suspect]
     Active Substance: AMLODIPINE MESYLATE
     Dosage: 5 MG, DAILY
     Route: 065
  133. AMLODIPINE MESYLATE [Suspect]
     Active Substance: AMLODIPINE MESYLATE
     Dosage: 5 MG, DAILY
     Route: 065
  134. AMLODIPINE MESYLATE [Suspect]
     Active Substance: AMLODIPINE MESYLATE
     Dosage: 5 MG, DAILY
     Route: 065
  135. AMLODIPINE MESYLATE [Suspect]
     Active Substance: AMLODIPINE MESYLATE
     Dosage: 5 MG, DAILY
     Route: 065
  136. AMLODIPINE MESYLATE [Suspect]
     Active Substance: AMLODIPINE MESYLATE
     Dosage: 5 MG, DAILY
     Route: 065
  137. AMLODIPINE MESYLATE [Suspect]
     Active Substance: AMLODIPINE MESYLATE
     Dosage: 5 MG, DAILY
     Route: 065
  138. AMLODIPINE MESYLATE [Suspect]
     Active Substance: AMLODIPINE MESYLATE
     Dosage: 5 MG, DAILY
     Route: 065
  139. AMLODIPINE MESYLATE [Suspect]
     Active Substance: AMLODIPINE MESYLATE
     Dosage: 5 MG, DAILY
     Route: 065
  140. AMLODIPINE MESYLATE [Suspect]
     Active Substance: AMLODIPINE MESYLATE
     Dosage: 5 MG, DAILY
     Route: 065
  141. AMLODIPINE MESYLATE [Suspect]
     Active Substance: AMLODIPINE MESYLATE
     Dosage: 5 MG, DAILY
     Route: 065
  142. AMLODIPINE MESYLATE [Suspect]
     Active Substance: AMLODIPINE MESYLATE
     Dosage: 5 MG, DAILY
     Route: 065
  143. AMLODIPINE MESYLATE [Suspect]
     Active Substance: AMLODIPINE MESYLATE
     Dosage: 5 MG, DAILY
     Route: 065
  144. AMLODIPINE MESYLATE [Suspect]
     Active Substance: AMLODIPINE MESYLATE
     Dosage: 5 MG, DAILY
     Route: 065
  145. AMLODIPINE MESYLATE [Suspect]
     Active Substance: AMLODIPINE MESYLATE
     Dosage: 5 MG, DAILY
     Route: 065
  146. AMLODIPINE MESYLATE [Suspect]
     Active Substance: AMLODIPINE MESYLATE
     Dosage: 5 MG, DAILY
     Route: 065
  147. AMLODIPINE MESYLATE [Suspect]
     Active Substance: AMLODIPINE MESYLATE
     Dosage: 5 MG, DAILY
     Route: 065
  148. AMLODIPINE MESYLATE [Suspect]
     Active Substance: AMLODIPINE MESYLATE
     Dosage: 5 MG, DAILY
     Route: 065
  149. AMLODIPINE MESYLATE [Suspect]
     Active Substance: AMLODIPINE MESYLATE
     Dosage: UNK
     Route: 065
  150. AMLODIPINE MESYLATE [Suspect]
     Active Substance: AMLODIPINE MESYLATE
     Dosage: UNK
     Route: 065
  151. AMLODIPINE MESYLATE [Suspect]
     Active Substance: AMLODIPINE MESYLATE
     Dosage: UNK
     Route: 065
  152. AMLODIPINE MESYLATE [Suspect]
     Active Substance: AMLODIPINE MESYLATE
     Dosage: UNK
     Route: 065
  153. AMITRIPTYLINE [Suspect]
     Active Substance: AMITRIPTYLINE
     Dosage: 20 MG, Q12H
     Route: 048
  154. AMITRIPTYLINE [Suspect]
     Active Substance: AMITRIPTYLINE
     Dosage: 20 MG, DAILY
     Route: 048
  155. AMITRIPTYLINE [Suspect]
     Active Substance: AMITRIPTYLINE
     Dosage: 25 MILLIGRAM, DAILY
     Route: 065
  156. AMITRIPTYLINE [Suspect]
     Active Substance: AMITRIPTYLINE
     Dosage: 20 MG, BID
     Route: 065
  157. AMITRIPTYLINE [Suspect]
     Active Substance: AMITRIPTYLINE
     Indication: Product used for unknown indication
     Dosage: 50 MILLIGRAM, DAILY
     Route: 065
  158. AMITRIPTYLINE [Suspect]
     Active Substance: AMITRIPTYLINE
     Dosage: 50 MILLIGRAM
     Route: 065
  159. AMITRIPTYLINE [Suspect]
     Active Substance: AMITRIPTYLINE
     Dosage: 75 MILLIGRAM 1EVERY 1 DAY
     Route: 065
  160. AMITRIPTYLINE [Suspect]
     Active Substance: AMITRIPTYLINE
     Dosage: 75 MILLIGRAM
     Route: 065
  161. AMITRIPTYLINE [Suspect]
     Active Substance: AMITRIPTYLINE
     Dosage: UNK
     Route: 048
  162. AMITRIPTYLINE [Suspect]
     Active Substance: AMITRIPTYLINE
     Dosage: UNK
     Route: 065
  163. CARBAMAZEPINE [Suspect]
     Active Substance: CARBAMAZEPINE
     Indication: Product used for unknown indication
     Dosage: 16 MILLIGRAM
     Route: 065
  164. CARBAMAZEPINE [Suspect]
     Active Substance: CARBAMAZEPINE
     Dosage: 200 MG
     Route: 065
  165. CARBAMAZEPINE [Suspect]
     Active Substance: CARBAMAZEPINE
     Dosage: 25 MG, DAILY
     Route: 065
  166. CARBAMAZEPINE [Suspect]
     Active Substance: CARBAMAZEPINE
     Dosage: 360 MILLIGRAM
     Route: 065
  167. CARBAMAZEPINE [Suspect]
     Active Substance: CARBAMAZEPINE
     Dosage: 50 MG, DAILY
     Route: 065
  168. CARBAMAZEPINE [Suspect]
     Active Substance: CARBAMAZEPINE
     Dosage: 50 MILLIGRAM, UNK
     Route: 065
  169. CARBAMAZEPINE [Suspect]
     Active Substance: CARBAMAZEPINE
     Dosage: 500 MILLIGRAM
     Route: 065
  170. CARBAMAZEPINE [Suspect]
     Active Substance: CARBAMAZEPINE
     Dosage: 650 MILLIGRAM
     Route: 065
  171. CARBAMAZEPINE [Suspect]
     Active Substance: CARBAMAZEPINE
     Dosage: 75 MG, DAILY
     Route: 065
  172. CARBAMAZEPINE [Suspect]
     Active Substance: CARBAMAZEPINE
     Dosage: 75 MG, UNK
     Route: 065
  173. CARBAMAZEPINE [Suspect]
     Active Substance: CARBAMAZEPINE
     Dosage: 750 MILLIGRAM, DAILY
     Route: 065
  174. DILTIAZEM HYDROCHLORIDE [Suspect]
     Active Substance: DILTIAZEM HYDROCHLORIDE
     Indication: Product used for unknown indication
     Dosage: UNK
     Route: 065
  175. OXAZEPAM [Suspect]
     Active Substance: OXAZEPAM
     Indication: Product used for unknown indication
     Dosage: UNK
     Route: 065
  176. CYCLOBENZAPRINE [Suspect]
     Active Substance: CYCLOBENZAPRINE
     Indication: Product used for unknown indication
     Dosage: UNK
     Route: 065
  177. ASPIRIN [Suspect]
     Active Substance: ASPIRIN
     Indication: Hypertension
     Dosage: UNK
     Route: 065
  178. ASPIRIN [Suspect]
     Active Substance: ASPIRIN
     Indication: Angina pectoris
  179. ASPIRIN [Suspect]
     Active Substance: ASPIRIN
     Indication: Coronary artery disease
  180. BISACODYL [Suspect]
     Active Substance: BISACODYL
     Indication: Constipation
     Dosage: UNK
     Route: 048
  181. CALCIUM CARBONATE [Suspect]
     Active Substance: CALCIUM CARBONATE
     Indication: Product used for unknown indication
     Dosage: UNK
     Route: 065
  182. CALCIUM CARBONATE [Suspect]
     Active Substance: CALCIUM CARBONATE
     Dosage: UNK
     Route: 065
  183. CARBAMAZEPINE [Suspect]
     Active Substance: CARBAMAZEPINE
     Indication: Product used for unknown indication
     Dosage: 650 MG
     Route: 065
  184. CARBAMAZEPINE [Suspect]
     Active Substance: CARBAMAZEPINE
     Dosage: UNK
     Route: 065
  185. CAFFEINE [Suspect]
     Active Substance: CAFFEINE
     Indication: Product used for unknown indication
     Dosage: UNK
     Route: 065
  186. CRANBERRY [Suspect]
     Active Substance: CRANBERRY
     Indication: Product used for unknown indication
     Dosage: UNK
     Route: 065
  187. CRANBERRY JUICE [Suspect]
     Active Substance: CRANBERRY JUICE
     Dosage: 1500 MILLIGRAM, DAILY
     Route: 065
  188. CRANBERRY JUICE [Suspect]
     Active Substance: CRANBERRY JUICE
     Indication: Bladder disorder
     Dosage: 500 MG, Q8H
     Route: 065
  189. CRANBERRY JUICE [Suspect]
     Active Substance: CRANBERRY JUICE
     Dosage: 500 MG, Q8H
     Route: 065
  190. CRANBERRY JUICE [Suspect]
     Active Substance: CRANBERRY JUICE
     Dosage: 500 MG, UNK
     Route: 065
  191. CRANBERRY JUICE [Suspect]
     Active Substance: CRANBERRY JUICE
     Dosage: UNK
     Route: 065
  192. CRANBERRY JUICE [Suspect]
     Active Substance: CRANBERRY JUICE
     Dosage: UNK
     Route: 065
  193. CYCLOBENZAPRINE [Suspect]
     Active Substance: CYCLOBENZAPRINE
     Dosage: 20 MG, DAILY
     Route: 065
  194. CYCLOBENZAPRINE [Suspect]
     Active Substance: CYCLOBENZAPRINE
     Dosage: 20 MG, DAILY
     Route: 065
  195. CYCLOBENZAPRINE [Suspect]
     Active Substance: CYCLOBENZAPRINE
     Dosage: 20 MG, DAILY
     Route: 065
  196. CYCLOBENZAPRINE [Suspect]
     Active Substance: CYCLOBENZAPRINE
     Dosage: 20 MILLIGRAM, Q12H
     Route: 065
  197. CYCLOBENZAPRINE [Suspect]
     Active Substance: CYCLOBENZAPRINE
     Dosage: 200 MILLIGRAM, 4 EVERY 1 DAY
     Route: 065
  198. CYCLOBENZAPRINE [Suspect]
     Active Substance: CYCLOBENZAPRINE
     Dosage: 40 MG, DAILY
     Route: 048
  199. CYCLOBENZAPRINE [Suspect]
     Active Substance: CYCLOBENZAPRINE
     Indication: Product used for unknown indication
     Dosage: 40 MG, DAILY
     Route: 065
  200. CYCLOBENZAPRINE [Suspect]
     Active Substance: CYCLOBENZAPRINE
     Dosage: 40 MG, DAILY
     Route: 065
  201. CYCLOBENZAPRINE [Suspect]
     Active Substance: CYCLOBENZAPRINE
     Dosage: 40 MG, DAILY
     Route: 065
  202. CYCLOBENZAPRINE [Suspect]
     Active Substance: CYCLOBENZAPRINE
     Dosage: 40 MG, QD
     Route: 065
  203. CYCLOBENZAPRINE [Suspect]
     Active Substance: CYCLOBENZAPRINE
     Dosage: 400 MG, DAILY
     Route: 065
  204. CYCLOBENZAPRINE [Suspect]
     Active Substance: CYCLOBENZAPRINE
     Dosage: 800 MG, DAILY
     Route: 065
  205. CYCLOBENZAPRINE [Suspect]
     Active Substance: CYCLOBENZAPRINE
     Dosage: UNK
     Route: 065
  206. CYCLOBENZAPRINE [Suspect]
     Active Substance: CYCLOBENZAPRINE
     Dosage: UNK
     Route: 065
  207. DIAZEPAM [Suspect]
     Active Substance: DIAZEPAM
     Dosage: 0.4 MILLIGRAM
     Route: 065
  208. DIAZEPAM [Suspect]
     Active Substance: DIAZEPAM
     Dosage: 115 MILLIGRAM, DAILY
     Route: 065
  209. DIAZEPAM [Suspect]
     Active Substance: DIAZEPAM
     Dosage: 15 MG, QD
     Route: 065
  210. DIAZEPAM [Suspect]
     Active Substance: DIAZEPAM
     Dosage: 300 MG, DAILY
     Route: 065
  211. DIAZEPAM [Suspect]
     Active Substance: DIAZEPAM
     Dosage: 36 MILLIGRAM, DAILY
     Route: 065
  212. DIAZEPAM [Suspect]
     Active Substance: DIAZEPAM
     Dosage: 360 MG, DAILY
     Route: 065
  213. DIAZEPAM [Suspect]
     Active Substance: DIAZEPAM
     Dosage: 360 MG, DAILY
     Route: 065
  214. DIAZEPAM [Suspect]
     Active Substance: DIAZEPAM
     Dosage: 360 MG, DAILY
     Route: 065
  215. DIAZEPAM [Suspect]
     Active Substance: DIAZEPAM
     Dosage: 360 MG, DAILY
     Route: 065
  216. DIAZEPAM [Suspect]
     Active Substance: DIAZEPAM
     Dosage: 360 MG, DAILY
     Route: 065
  217. DIAZEPAM [Suspect]
     Active Substance: DIAZEPAM
     Dosage: 360 MG, DAILY
     Route: 065
  218. DIAZEPAM [Suspect]
     Active Substance: DIAZEPAM
     Dosage: 360 MG, UNK
     Route: 065
  219. DIAZEPAM [Suspect]
     Active Substance: DIAZEPAM
     Dosage: 500 MILLIGRAM, DAILY
     Route: 065
  220. DIAZEPAM [Suspect]
     Active Substance: DIAZEPAM
     Dosage: 75 MG, QD
     Route: 065
  221. DIAZEPAM [Suspect]
     Active Substance: DIAZEPAM
     Indication: Product used for unknown indication
     Dosage: UNK
     Route: 065
  222. DIAZEPAM [Suspect]
     Active Substance: DIAZEPAM
     Dosage: UNK
     Route: 065
  223. DILTIAZEM [Suspect]
     Active Substance: DILTIAZEM
     Dosage: 360 MG, DAILY
     Route: 065
  224. DILTIAZEM [Suspect]
     Active Substance: DILTIAZEM
     Indication: Product used for unknown indication
     Dosage: 500 MG, DAILY
     Route: 065
  225. DILTIAZEM HYDROCHLORIDE [Suspect]
     Active Substance: DILTIAZEM HYDROCHLORIDE
     Indication: Product used for unknown indication
     Dosage: 6 MG, DAILY(1 EVERY 1 DAYS)
     Route: 065
  226. DIPYRIDAMOLE [Suspect]
     Active Substance: DIPYRIDAMOLE
     Dosage: 10 MILLIGRAM, DAILY
     Route: 065
  227. DIPYRIDAMOLE [Suspect]
     Active Substance: DIPYRIDAMOLE
     Dosage: 1240 MILLIGRAM, DAILY
     Route: 065
  228. DIPYRIDAMOLE [Suspect]
     Active Substance: DIPYRIDAMOLE
     Dosage: 1244 MG, DAILY
     Route: 065
  229. DIPYRIDAMOLE [Suspect]
     Active Substance: DIPYRIDAMOLE
     Dosage: 1 DF, BID
     Route: 065
  230. DIPYRIDAMOLE [Suspect]
     Active Substance: DIPYRIDAMOLE
     Dosage: 1244 MILLIGRAM, BID(1 EVERY 12HOURS)2
     Route: 065
  231. DIPYRIDAMOLE [Suspect]
     Active Substance: DIPYRIDAMOLE
     Dosage: 2 DOSAGE FORM, BID
     Route: 065
  232. DIPYRIDAMOLE [Suspect]
     Active Substance: DIPYRIDAMOLE
     Dosage: 311 MG, 2 EVERY 1 DAYS
     Route: 065
  233. DIPYRIDAMOLE [Suspect]
     Active Substance: DIPYRIDAMOLE
     Dosage: 622 MG, DAILY
     Route: 065
  234. DIPYRIDAMOLE [Suspect]
     Active Substance: DIPYRIDAMOLE
     Dosage: 622 MG, Q12H
     Route: 065
  235. DIPYRIDAMOLE [Suspect]
     Active Substance: DIPYRIDAMOLE
     Indication: Product used for unknown indication
     Dosage: 622 MG, UNK
     Route: 065
  236. DIPYRIDAMOLE [Suspect]
     Active Substance: DIPYRIDAMOLE
     Dosage: 2 DF, DAILY
     Route: 065
  237. DIPYRIDAMOLE [Suspect]
     Active Substance: DIPYRIDAMOLE
     Dosage: UNK, BID
     Route: 065
  238. DIPYRIDAMOLE [Suspect]
     Active Substance: DIPYRIDAMOLE
     Dosage: UNK, DAILY
     Route: 065
  239. DIPYRIDAMOLE [Suspect]
     Active Substance: DIPYRIDAMOLE
     Dosage: 1 EVERY 2 DAYS
     Route: 065
  240. DOCUSATE SODIUM [Suspect]
     Active Substance: DOCUSATE SODIUM
     Dosage: 16 MILLIGRAM, DAILY
     Route: 065
  241. DOCUSATE SODIUM [Suspect]
     Active Substance: DOCUSATE SODIUM
     Indication: Product used for unknown indication
     Dosage: 18 MILLIGRAM, DAILY
     Route: 065
  242. DOCUSATE SODIUM [Suspect]
     Active Substance: DOCUSATE SODIUM
     Dosage: UNK
     Route: 065
  243. DROTAVERINE [Suspect]
     Active Substance: DROTAVERINE
     Indication: Product used for unknown indication
     Dosage: UNK
     Route: 065
  244. DULCOLAX (BISACODYL) [Suspect]
     Active Substance: BISACODYL
     Indication: Hypertension
     Dosage: 2 DF, DAILY
     Route: 048
  245. DULCOLAX (BISACODYL) [Suspect]
     Active Substance: BISACODYL
     Dosage: UNK
     Route: 048
  246. ERGOCALCIFEROL [Suspect]
     Active Substance: ERGOCALCIFEROL
     Indication: Product used for unknown indication
     Dosage: UNK
     Route: 065
  247. FUROSEMIDE [Suspect]
     Active Substance: FUROSEMIDE
     Dosage: 1000 MG, DAILY
     Route: 065
  248. FUROSEMIDE [Suspect]
     Active Substance: FUROSEMIDE
     Dosage: 500 MG, BID
     Route: 065
  249. FUROSEMIDE [Suspect]
     Active Substance: FUROSEMIDE
     Dosage: 250 MILLIGRAM, DAILY
     Route: 065
  250. FUROSEMIDE [Suspect]
     Active Substance: FUROSEMIDE
     Dosage: 2500 MILLIGRAM, DAILY
     Route: 065
  251. FUROSEMIDE [Suspect]
     Active Substance: FUROSEMIDE
     Dosage: 500 MG, 5/DAY
     Route: 065
  252. FUROSEMIDE [Suspect]
     Active Substance: FUROSEMIDE
     Dosage: 250 MG, BID
     Route: 065
  253. FUROSEMIDE [Suspect]
     Active Substance: FUROSEMIDE
     Dosage: 500 MG, DAILY
     Route: 065
  254. FUROSEMIDE [Suspect]
     Active Substance: FUROSEMIDE
     Indication: Product used for unknown indication
     Dosage: 500 MG, Q1H
     Route: 065
  255. FUROSEMIDE [Suspect]
     Active Substance: FUROSEMIDE
     Dosage: 500 MG, Q1H
     Route: 065
  256. FUROSEMIDE [Suspect]
     Active Substance: FUROSEMIDE
     Dosage: 500 MG, Q12H
     Route: 065
  257. FUROSEMIDE [Suspect]
     Active Substance: FUROSEMIDE
     Dosage: 250 MG, 2 EVERY 2 DAYS
     Route: 065
  258. FUROSEMIDE [Suspect]
     Active Substance: FUROSEMIDE
     Dosage: 500 MILLIGRAM 1 EVERY 5 DAYS
     Route: 065
  259. FUROSEMIDE [Suspect]
     Active Substance: FUROSEMIDE
     Dosage: 500 MILLIGRAM
     Route: 065
  260. FUROSEMIDE [Suspect]
     Active Substance: FUROSEMIDE
     Dosage: UNK
     Route: 065
  261. FUROSEMIDE [Suspect]
     Active Substance: FUROSEMIDE
     Dosage: UNK
     Route: 065
  262. FRUCTOSE\GLYCERIN\SODIUM CHLORIDE [Suspect]
     Active Substance: FRUCTOSE\GLYCERIN\SODIUM CHLORIDE
     Dosage: 0.4 MG, DAILY
     Route: 065
  263. FRUCTOSE\GLYCERIN\SODIUM CHLORIDE [Suspect]
     Active Substance: FRUCTOSE\GLYCERIN\SODIUM CHLORIDE
     Dosage: 0.4 MG, PRN
     Route: 065
  264. FRUCTOSE\GLYCERIN\SODIUM CHLORIDE [Suspect]
     Active Substance: FRUCTOSE\GLYCERIN\SODIUM CHLORIDE
     Dosage: 1 DF, DAILY
     Route: 065
  265. FRUCTOSE\GLYCERIN\SODIUM CHLORIDE [Suspect]
     Active Substance: FRUCTOSE\GLYCERIN\SODIUM CHLORIDE
     Dosage: 4 MILLIGRAM, DAILY
     Route: 065
  266. FRUCTOSE\GLYCERIN\SODIUM CHLORIDE [Suspect]
     Active Substance: FRUCTOSE\GLYCERIN\SODIUM CHLORIDE
     Dosage: UNK
     Route: 064
  267. FRUCTOSE\GLYCERIN\SODIUM CHLORIDE [Suspect]
     Active Substance: FRUCTOSE\GLYCERIN\SODIUM CHLORIDE
     Indication: Product used for unknown indication
     Dosage: UNK
     Route: 065
  268. GALANTAMINE [Suspect]
     Active Substance: GALANTAMINE
     Indication: Product used for unknown indication
     Dosage: 15 MG, DAILY
     Route: 065
  269. GALANTAMINE [Suspect]
     Active Substance: GALANTAMINE
     Dosage: 15 MG, DAILY
     Route: 065
  270. GALANTAMINE [Suspect]
     Active Substance: GALANTAMINE
     Dosage: 15 MG, DAILY
     Route: 065
  271. GALANTAMINE [Suspect]
     Active Substance: GALANTAMINE
     Dosage: UNK, 1 EVERY 1 DAYS
     Route: 065
  272. GALANTAMINE [Suspect]
     Active Substance: GALANTAMINE
     Dosage: UNK
     Route: 065
  273. GALANTAMINE HYDROBROMIDE [Suspect]
     Active Substance: GALANTAMINE HYDROBROMIDE
     Indication: Product used for unknown indication
     Dosage: 40 MG, DAILY16 MG, 1 EVERY 1 DAY
     Route: 065
  274. GALANTAMINE HYDROBROMIDE [Suspect]
     Active Substance: GALANTAMINE HYDROBROMIDE
     Dosage: 16 MG
     Route: 065
  275. GALANTAMINE HYDROBROMIDE [Suspect]
     Active Substance: GALANTAMINE HYDROBROMIDE
     Indication: Product used for unknown indication
     Dosage: UNK
     Route: 065
  276. GALANTAMINE HYDROBROMIDE [Suspect]
     Active Substance: GALANTAMINE HYDROBROMIDE
     Dosage: UNK
     Route: 065
  277. GLUCOSAMINE [Suspect]
     Active Substance: GLUCOSAMINE
     Indication: Product used for unknown indication
     Dosage: 10 MG, DAILY
     Route: 030
  278. GLUCOSAMINE [Suspect]
     Active Substance: GLUCOSAMINE
     Dosage: 20 MILLIGRAM, DAILY
     Route: 030
  279. CHONDROITIN SULFATE (BOVINE)\GLUCOSAMINE SULFATE [Suspect]
     Active Substance: CHONDROITIN SULFATE (BOVINE)\GLUCOSAMINE SULFATE
     Indication: Product used for unknown indication
     Dosage: UNK
     Route: 065
  280. CHONDROITIN SULFATE (BOVINE)\GLUCOSAMINE SULFATE [Suspect]
     Active Substance: CHONDROITIN SULFATE (BOVINE)\GLUCOSAMINE SULFATE
     Indication: Product used for unknown indication
     Dosage: UNK
     Route: 065
  281. GLUCOSAMINE SULFATE [Suspect]
     Active Substance: GLUCOSAMINE SULFATE
     Dosage: 25 MILLIGRAM
     Route: 065
  282. GLUCOSAMINE SULFATE [Suspect]
     Active Substance: GLUCOSAMINE SULFATE
     Dosage: 5 MILLIGRAM, DAILY
     Route: 065
  283. GLUCOSAMINE SULFATE [Suspect]
     Active Substance: GLUCOSAMINE SULFATE
     Dosage: 50 MG, DAILY
     Route: 065
  284. GLUCOSAMINE SULFATE [Suspect]
     Active Substance: GLUCOSAMINE SULFATE
     Dosage: 50 MG, DAILY
     Route: 065
  285. GLUCOSAMINE SULFATE [Suspect]
     Active Substance: GLUCOSAMINE SULFATE
     Dosage: 50 MG, UNK
     Route: 065
  286. GLUCOSAMINE SULFATE [Suspect]
     Active Substance: GLUCOSAMINE SULFATE
     Dosage: 50 MG, UNK
     Route: 065
  287. GLUCOSAMINE SULFATE [Suspect]
     Active Substance: GLUCOSAMINE SULFATE
     Dosage: 75 MG, DAILY
     Route: 065
  288. GLUCOSAMINE SULFATE [Suspect]
     Active Substance: GLUCOSAMINE SULFATE
     Dosage: 75 MG, DAILY
     Route: 065
  289. GLUCOSAMINE SULFATE [Suspect]
     Active Substance: GLUCOSAMINE SULFATE
     Dosage: 75 MG, DAILY
     Route: 065
  290. GLUCOSAMINE SULFATE [Suspect]
     Active Substance: GLUCOSAMINE SULFATE
     Dosage: 75MG UNK
     Route: 065
  291. GLUCOSAMINE SULFATE [Suspect]
     Active Substance: GLUCOSAMINE SULFATE
     Dosage: UNK
     Route: 048
  292. GLUCOSAMINE SULFATE [Suspect]
     Active Substance: GLUCOSAMINE SULFATE
     Indication: Product used for unknown indication
     Dosage: UNK
     Route: 065
  293. GLUCOSAMINE SULFATE [Suspect]
     Active Substance: GLUCOSAMINE SULFATE
     Dosage: UNK
     Route: 065
  294. GLUCOSAMINE SULFATE [Suspect]
     Active Substance: GLUCOSAMINE SULFATE
     Dosage: UNK
     Route: 065
  295. GLUCOSAMINE SULFATE [Suspect]
     Active Substance: GLUCOSAMINE SULFATE
     Dosage: UNK
     Route: 065
  296. GLUCOSAMINE SULFATE [Suspect]
     Active Substance: GLUCOSAMINE SULFATE
     Dosage: UNK
     Route: 065
  297. GLUCOSAMINE SULFATE [Suspect]
     Active Substance: GLUCOSAMINE SULFATE
     Dosage: UNK
     Route: 065
  298. GLYCERIN [Suspect]
     Active Substance: GLYCERIN
     Indication: Product used for unknown indication
     Dosage: UNK
     Route: 065
  299. NITROGLYCERIN [Suspect]
     Active Substance: NITROGLYCERIN
     Indication: Product used for unknown indication
     Dosage: 100 MILLIGRAM
     Route: 065
  300. NITROGLYCERIN [Suspect]
     Active Substance: NITROGLYCERIN
     Dosage: 15 MILLIGRAM, Q8H
     Route: 065
  301. NITROGLYCERIN [Suspect]
     Active Substance: NITROGLYCERIN
     Dosage: 2 MILLIGRAM
     Route: 065
  302. NITROGLYCERIN [Suspect]
     Active Substance: NITROGLYCERIN
     Dosage: 5 MILLIGRAM, Q8H
     Route: 065
  303. NITROGLYCERIN [Suspect]
     Active Substance: NITROGLYCERIN
     Dosage: 5 MILLIGRAM,3 EVERY 1 DAYS
     Route: 065
  304. NITROGLYCERIN [Suspect]
     Active Substance: NITROGLYCERIN
     Dosage: 5 MILLIGRAM
     Route: 065
  305. NITROGLYCERIN [Suspect]
     Active Substance: NITROGLYCERIN
     Dosage: UNK
     Route: 065
  306. NITROGLYCERIN [Suspect]
     Active Substance: NITROGLYCERIN
     Dosage: UNK
     Route: 065
  307. NITROGLYCERIN [Suspect]
     Active Substance: NITROGLYCERIN
     Dosage: UNK
     Route: 065
  308. HYDROCHLOROTHIAZIDE\QUINAPRIL HYDROCHLORIDE [Suspect]
     Active Substance: HYDROCHLOROTHIAZIDE\QUINAPRIL HYDROCHLORIDE
     Indication: Product used for unknown indication
     Dosage: UNK
     Route: 065
  309. LACTULOSE [Suspect]
     Active Substance: LACTULOSE
     Dosage: 15 MG, DAILY
     Route: 048
  310. LACTULOSE [Suspect]
     Active Substance: LACTULOSE
     Dosage: 15 MG, DAILY
     Route: 048
  311. LACTULOSE [Suspect]
     Active Substance: LACTULOSE
     Dosage: 15 MG, DAILY
     Route: 048
  312. LACTULOSE [Suspect]
     Active Substance: LACTULOSE
     Dosage: 15 MILLIGRAM, DAILY
     Route: 065
  313. LACTULOSE [Suspect]
     Active Substance: LACTULOSE
     Indication: Product used for unknown indication
     Dosage: 15 MG, UNK
     Route: 048
  314. LACTULOSE [Suspect]
     Active Substance: LACTULOSE
     Dosage: 15 MG AS REQUIRED
     Route: 048
  315. LACTULOSE [Suspect]
     Active Substance: LACTULOSE
     Dosage: 15 ML, DAILY
     Route: 065
  316. LACTULOSE [Suspect]
     Active Substance: LACTULOSE
     Dosage: 15 ML, UNK
     Route: 048
  317. LACTULOSE [Suspect]
     Active Substance: LACTULOSE
     Dosage: 15 ML, UNK
     Route: 065
  318. LACTULOSE [Suspect]
     Active Substance: LACTULOSE
     Dosage: 15 ML, PRN
     Route: 048
  319. LACTULOSE [Suspect]
     Active Substance: LACTULOSE
     Dosage: 15 ML, PRN
     Route: 065
  320. LACTULOSE [Suspect]
     Active Substance: LACTULOSE
     Dosage: 2 DOSAGE FORM, DAILY
     Route: 065
  321. LACTULOSE [Suspect]
     Active Substance: LACTULOSE
     Dosage: UNK
     Route: 048
  322. LEVOFLOXACIN [Suspect]
     Active Substance: LEVOFLOXACIN
     Indication: Radioactive iodine therapy
     Dosage: 15 MG, UNK
     Route: 065
  323. LEVOFLOXACIN [Suspect]
     Active Substance: LEVOFLOXACIN
     Dosage: 200 MILLIGRAM, DAILY
     Route: 065
  324. LEVOFLOXACIN [Suspect]
     Active Substance: LEVOFLOXACIN
     Dosage: 250 MG, DAILY
     Route: 065
  325. LEVOFLOXACIN [Suspect]
     Active Substance: LEVOFLOXACIN
     Indication: Urinary tract infection
     Dosage: 250 MG, Q12H
     Route: 065
  326. LEVOFLOXACIN [Suspect]
     Active Substance: LEVOFLOXACIN
     Indication: Thyroid disorder
     Dosage: 250 MG, UNK
     Route: 065
  327. LEVOFLOXACIN [Suspect]
     Active Substance: LEVOFLOXACIN
     Dosage: UNK
     Route: 065
  328. LEVOTHYROXINE [Suspect]
     Active Substance: LEVOTHYROXINE\LEVOTHYROXINE SODIUM
     Dosage: 1 DF, DAILY
     Route: 065
  329. LEVOTHYROXINE [Suspect]
     Active Substance: LEVOTHYROXINE\LEVOTHYROXINE SODIUM
     Dosage: 1 DOSAGE FORM, Q12H
     Route: 065
  330. LEVOTHYROXINE [Suspect]
     Active Substance: LEVOTHYROXINE\LEVOTHYROXINE SODIUM
     Dosage: 1 DOSAGE FORM, 1 EVERY 12 HOURS
     Route: 065
  331. LEVOTHYROXINE [Suspect]
     Active Substance: LEVOTHYROXINE\LEVOTHYROXINE SODIUM
     Dosage: 10 MG UNK
     Route: 065
  332. LEVOTHYROXINE [Suspect]
     Active Substance: LEVOTHYROXINE\LEVOTHYROXINE SODIUM
     Dosage: 100 MILLIGRAM, DAILY
     Route: 065
  333. LEVOTHYROXINE [Suspect]
     Active Substance: LEVOTHYROXINE\LEVOTHYROXINE SODIUM
     Dosage: 100 MG, Q12H
     Route: 065
  334. LEVOTHYROXINE [Suspect]
     Active Substance: LEVOTHYROXINE\LEVOTHYROXINE SODIUM
     Dosage: 100 MG, UNK
     Route: 065
  335. LEVOTHYROXINE [Suspect]
     Active Substance: LEVOTHYROXINE\LEVOTHYROXINE SODIUM
     Dosage: 2 DF, DAILY
     Route: 065
  336. LEVOTHYROXINE [Suspect]
     Active Substance: LEVOTHYROXINE\LEVOTHYROXINE SODIUM
     Dosage: 2 DF, Q12H
     Route: 065
  337. LEVOTHYROXINE [Suspect]
     Active Substance: LEVOTHYROXINE\LEVOTHYROXINE SODIUM
     Dosage: 200 MG, DAILY
     Route: 065
  338. LEVOTHYROXINE [Suspect]
     Active Substance: LEVOTHYROXINE\LEVOTHYROXINE SODIUM
     Indication: Product used for unknown indication
     Dosage: 200 MILLIGRAM
     Route: 065
  339. LEVOTHYROXINE [Suspect]
     Active Substance: LEVOTHYROXINE\LEVOTHYROXINE SODIUM
     Dosage: 200 MG, Q12H
     Route: 065
  340. LEVOTHYROXINE [Suspect]
     Active Substance: LEVOTHYROXINE\LEVOTHYROXINE SODIUM
     Dosage: 200 MG, Q12H
     Route: 065
  341. LEVOTHYROXINE [Suspect]
     Active Substance: LEVOTHYROXINE\LEVOTHYROXINE SODIUM
     Dosage: 200 MG, 1 EVERY 2 DAYS
     Route: 065
  342. LEVOTHYROXINE [Suspect]
     Active Substance: LEVOTHYROXINE\LEVOTHYROXINE SODIUM
     Dosage: 200 MG, QOD
     Route: 065
  343. LEVOTHYROXINE [Suspect]
     Active Substance: LEVOTHYROXINE\LEVOTHYROXINE SODIUM
     Dosage: 400 MILLIGRAM, 1 EVERY 5 DAYS
     Route: 065
  344. LEVOTHYROXINE [Suspect]
     Active Substance: LEVOTHYROXINE\LEVOTHYROXINE SODIUM
     Dosage: 400 MILLIGRAM, DAILY
     Route: 065
  345. LEVOTHYROXINE [Suspect]
     Active Substance: LEVOTHYROXINE\LEVOTHYROXINE SODIUM
     Dosage: 400 MG, Q12H
     Route: 065
  346. LEVOTHYROXINE [Suspect]
     Active Substance: LEVOTHYROXINE\LEVOTHYROXINE SODIUM
     Dosage: 500 MILLIGRAM, Q12H
     Route: 065
  347. LEVOTHYROXINE [Suspect]
     Active Substance: LEVOTHYROXINE\LEVOTHYROXINE SODIUM
     Dosage: 800 MILLIGRAM, Q12H
     Route: 065
  348. LEVOTHYROXINE [Suspect]
     Active Substance: LEVOTHYROXINE\LEVOTHYROXINE SODIUM
     Dosage: UNK, Q12H(1 EVERY 12 HOURS)
     Route: 065
  349. LEVOTHYROXINE [Suspect]
     Active Substance: LEVOTHYROXINE\LEVOTHYROXINE SODIUM
     Dosage: UNK
     Route: 065
  350. LEVOTHYROXINE SODIUM [Suspect]
     Active Substance: LEVOTHYROXINE SODIUM
     Indication: Product used for unknown indication
     Dosage: UNK
     Route: 065
  351. LEVOFLOXACIN HEMIHYDRATE [Suspect]
     Active Substance: LEVOFLOXACIN
     Indication: Urinary tract infection
     Dosage: 200 MG, DAILY
     Route: 065
  352. LEVOFLOXACIN HEMIHYDRATE [Suspect]
     Active Substance: LEVOFLOXACIN
     Dosage: 250 MILLIGRAM, DAILY
     Route: 065
  353. MORPHINE SULFATE [Suspect]
     Active Substance: MORPHINE SULFATE
     Dosage: 0.08 MILLIGRAM, DAILY
     Route: 065
  354. MORPHINE SULFATE [Suspect]
     Active Substance: MORPHINE SULFATE
     Dosage: 0.088 MG, UNK
     Route: 065
  355. MORPHINE SULFATE [Suspect]
     Active Substance: MORPHINE SULFATE
     Dosage: 0.088 MG, DAILY
     Route: 065
  356. MORPHINE SULFATE [Suspect]
     Active Substance: MORPHINE SULFATE
     Dosage: 0.09 MG, DAILY
     Route: 065
  357. MORPHINE SULFATE [Suspect]
     Active Substance: MORPHINE SULFATE
     Indication: Product used for unknown indication
     Dosage: 0.088 MILLIGRAM
     Route: 048
  358. MORPHINE SULFATE [Suspect]
     Active Substance: MORPHINE SULFATE
     Dosage: 0.09 MILLIGRAM
     Route: 048
  359. MORPHINE SULFATE [Suspect]
     Active Substance: MORPHINE SULFATE
     Dosage: 0.8 MG, DAILY
     Route: 065
  360. MORPHINE SULFATE [Suspect]
     Active Substance: MORPHINE SULFATE
     Dosage: 0.888 MILLIGRAM
     Route: 048
  361. MORPHINE SULFATE [Suspect]
     Active Substance: MORPHINE SULFATE
     Dosage: 0.9 MILLIGRAM, DAILY
     Route: 048
  362. MORPHINE SULFATE [Suspect]
     Active Substance: MORPHINE SULFATE
     Indication: Product used for unknown indication
     Dosage: 10 MG, QD
     Route: 065
  363. MORPHINE SULFATE [Suspect]
     Active Substance: MORPHINE SULFATE
     Dosage: 100 MG, QD
     Route: 065
  364. MORPHINE SULFATE [Suspect]
     Active Substance: MORPHINE SULFATE
     Dosage: 622 MG,1 EVERY 12 HOURS
     Route: 065
  365. MORPHINE SULFATE [Suspect]
     Active Substance: MORPHINE SULFATE
     Dosage: 88 MILLIGRAM, DAILY
     Route: 065
  366. MORPHINE SULFATE [Suspect]
     Active Substance: MORPHINE SULFATE
     Dosage: UNK
     Route: 065
  367. MAGNESIUM ALUMINUM SILICATE [Suspect]
     Active Substance: MAGNESIUM ALUMINUM SILICATE
     Dosage: 1 DOSAGE FORM, DAILY
     Route: 065
  368. MAGNESIUM ALUMINUM SILICATE [Suspect]
     Active Substance: MAGNESIUM ALUMINUM SILICATE
     Dosage: 1 DF, Q12H
     Route: 065
  369. MAGNESIUM ALUMINUM SILICATE [Suspect]
     Active Substance: MAGNESIUM ALUMINUM SILICATE
     Dosage: 10 MG, QD
     Route: 065
  370. MAGNESIUM ALUMINUM SILICATE [Suspect]
     Active Substance: MAGNESIUM ALUMINUM SILICATE
     Dosage: 100 MG, QD
     Route: 065
  371. MAGNESIUM ALUMINUM SILICATE [Suspect]
     Active Substance: MAGNESIUM ALUMINUM SILICATE
     Dosage: 2 DF, 1/WEEK
     Route: 065
  372. MAGNESIUM ALUMINUM SILICATE [Suspect]
     Active Substance: MAGNESIUM ALUMINUM SILICATE
     Dosage: 1 DOSAGE FORM, BID
     Route: 065
  373. MAGNESIUM ALUMINUM SILICATE [Suspect]
     Active Substance: MAGNESIUM ALUMINUM SILICATE
     Dosage: 2 DF, DAILY
     Route: 065
  374. MAGNESIUM ALUMINUM SILICATE [Suspect]
     Active Substance: MAGNESIUM ALUMINUM SILICATE
     Dosage: 2 DF, DAILY
     Route: 065
  375. MAGNESIUM ALUMINUM SILICATE [Suspect]
     Active Substance: MAGNESIUM ALUMINUM SILICATE
     Dosage: 2 DF, 1 EVERY 2 DAYS
     Route: 065
  376. MAGNESIUM ALUMINUM SILICATE [Suspect]
     Active Substance: MAGNESIUM ALUMINUM SILICATE
     Dosage: 2 DF, DAILY
     Route: 065
  377. MAGNESIUM ALUMINUM SILICATE [Suspect]
     Active Substance: MAGNESIUM ALUMINUM SILICATE
     Dosage: 1 DOSAGE FORM, 2/WEEK
     Route: 065
  378. MAGNESIUM ALUMINUM SILICATE [Suspect]
     Active Substance: MAGNESIUM ALUMINUM SILICATE
     Dosage: 2 DF IN TOTAL
     Route: 065
  379. MAGNESIUM ALUMINUM SILICATE [Suspect]
     Active Substance: MAGNESIUM ALUMINUM SILICATE
     Dosage: 2 DOSAGE FORM, BID
     Route: 065
  380. MAGNESIUM ALUMINUM SILICATE [Suspect]
     Active Substance: MAGNESIUM ALUMINUM SILICATE
     Dosage: 50 MG, DAILY
     Route: 065
  381. MAGNESIUM ALUMINUM SILICATE [Suspect]
     Active Substance: MAGNESIUM ALUMINUM SILICATE
     Dosage: 50 DOSAGE FORM, DAILY
     Route: 065
  382. MAGNESIUM ALUMINUM SILICATE [Suspect]
     Active Substance: MAGNESIUM ALUMINUM SILICATE
     Dosage: 620 MG, Q12H
     Route: 065
  383. MAGNESIUM ALUMINUM SILICATE [Suspect]
     Active Substance: MAGNESIUM ALUMINUM SILICATE
     Dosage: 75 MILLIGRAM, DAILY
     Route: 065
  384. MAGNESIUM ALUMINUM SILICATE [Suspect]
     Active Substance: MAGNESIUM ALUMINUM SILICATE
     Indication: Constipation
     Dosage: UNK
     Route: 065
  385. MAGNESIUM HYDROXIDE [Suspect]
     Active Substance: MAGNESIUM HYDROXIDE
     Indication: Product used for unknown indication
     Dosage: UNK
     Route: 065
  386. NITROGLYCERIN [Suspect]
     Active Substance: NITROGLYCERIN
     Indication: Product used for unknown indication
     Dosage: 1 DF, DAILY
     Route: 061
  387. NITROGLYCERIN [Suspect]
     Active Substance: NITROGLYCERIN
     Dosage: 0.4 MG, 1 EVERY 1DAY
     Route: 061
  388. NITROGLYCERIN [Suspect]
     Active Substance: NITROGLYCERIN
     Dosage: 0.4 MILLIGRAM, PRN
     Route: 061
  389. NITROGLYCERIN [Suspect]
     Active Substance: NITROGLYCERIN
     Dosage: 0.6 MG, 1EVERY 1DAY
     Route: 061
  390. NITROGLYCERIN [Suspect]
     Active Substance: NITROGLYCERIN
     Dosage: 0.6 MG, UNK
     Route: 061
  391. NITROGLYCERIN [Suspect]
     Active Substance: NITROGLYCERIN
     Dosage: 1 DF, DAILY
     Route: 065
  392. OMEPRAZOLE [Suspect]
     Active Substance: DONEPEZIL HYDROCHLORIDE\OMEPRAZOLE\OMEPRAZOLE MAGNESIUM
     Dosage: 20 MG, QD
     Route: 065
  393. OMEPRAZOLE [Suspect]
     Active Substance: DONEPEZIL HYDROCHLORIDE\OMEPRAZOLE\OMEPRAZOLE MAGNESIUM
     Dosage: 20 MG, QD
     Route: 065
  394. OMEPRAZOLE [Suspect]
     Active Substance: DONEPEZIL HYDROCHLORIDE\OMEPRAZOLE\OMEPRAZOLE MAGNESIUM
     Dosage: 20 MG
     Route: 065
  395. OMEPRAZOLE [Suspect]
     Active Substance: DONEPEZIL HYDROCHLORIDE\OMEPRAZOLE\OMEPRAZOLE MAGNESIUM
     Dosage: 20 MG
     Route: 065
  396. OMEPRAZOLE [Suspect]
     Active Substance: DONEPEZIL HYDROCHLORIDE\OMEPRAZOLE\OMEPRAZOLE MAGNESIUM
     Dosage: 20 MG, PRN
     Route: 065
  397. OMEPRAZOLE [Suspect]
     Active Substance: DONEPEZIL HYDROCHLORIDE\OMEPRAZOLE\OMEPRAZOLE MAGNESIUM
     Indication: Product used for unknown indication
     Dosage: UNK
     Route: 065
  398. OMEPRAZOLE [Suspect]
     Active Substance: DONEPEZIL HYDROCHLORIDE\OMEPRAZOLE\OMEPRAZOLE MAGNESIUM
     Dosage: UNK
     Route: 065
  399. OXCARBAZEPINE [Suspect]
     Active Substance: OXCARBAZEPINE
     Dosage: 10 MG, DAILY
     Route: 065
  400. OXCARBAZEPINE [Suspect]
     Active Substance: OXCARBAZEPINE
     Dosage: 20 MG, DAILY
     Route: 065
  401. OXCARBAZEPINE [Suspect]
     Active Substance: OXCARBAZEPINE
     Indication: Product used for unknown indication
     Dosage: 4 MG, DAILY
     Route: 065
  402. OXCARBAZEPINE [Suspect]
     Active Substance: OXCARBAZEPINE
     Dosage: 4 MG, DAILY
     Route: 065
  403. OXCARBAZEPINE [Suspect]
     Active Substance: OXCARBAZEPINE
     Dosage: 40 UNK, 1 EVERY 1DAY
     Route: 061
  404. OXCARBAZEPINE [Suspect]
     Active Substance: OXCARBAZEPINE
     Dosage: 40 MG, DAILY
     Route: 061
  405. OXCARBAZEPINE [Suspect]
     Active Substance: OXCARBAZEPINE
     Dosage: 40 MG, DAILY
     Route: 061
  406. OXCARBAZEPINE [Suspect]
     Active Substance: OXCARBAZEPINE
     Dosage: 40 MG, UNK
     Route: 065
  407. OXCARBAZEPINE [Suspect]
     Active Substance: OXCARBAZEPINE
     Dosage: UNK
     Route: 065
  408. MORPHINE SULFATE [Suspect]
     Active Substance: MORPHINE SULFATE
     Indication: Product used for unknown indication
     Dosage: UNK
     Route: 065
  409. OXAZEPAM [Suspect]
     Active Substance: OXAZEPAM
     Dosage: 50 MILLIGRAM, DAILY
     Route: 065
  410. OXAZEPAM [Suspect]
     Active Substance: OXAZEPAM
     Indication: Product used for unknown indication
     Dosage: 75 MG, DAILY
     Route: 065
  411. ACETAMINOPHEN [Suspect]
     Active Substance: ACETAMINOPHEN
     Dosage: 0.625 MG(0.623 MG)
     Route: 065
  412. ACETAMINOPHEN [Suspect]
     Active Substance: ACETAMINOPHEN
     Dosage: 1 MG, QD
     Route: 065
  413. ACETAMINOPHEN [Suspect]
     Active Substance: ACETAMINOPHEN
     Dosage: 1.87 MG, QID
     Route: 065
  414. ACETAMINOPHEN [Suspect]
     Active Substance: ACETAMINOPHEN
     Dosage: 1.87 MG
     Route: 065
  415. ACETAMINOPHEN [Suspect]
     Active Substance: ACETAMINOPHEN
     Dosage: 1.87 MG
     Route: 065
  416. ACETAMINOPHEN [Suspect]
     Active Substance: ACETAMINOPHEN
     Dosage: 1.87 MG, 3 EVERY 3 DAYS
     Route: 065
  417. ACETAMINOPHEN [Suspect]
     Active Substance: ACETAMINOPHEN
     Dosage: 100 MG
     Route: 065
  418. ACETAMINOPHEN [Suspect]
     Active Substance: ACETAMINOPHEN
     Dosage: 100 UG, Q12H
     Route: 065
  419. ACETAMINOPHEN [Suspect]
     Active Substance: ACETAMINOPHEN
     Dosage: 15 MG
     Route: 065
  420. ACETAMINOPHEN [Suspect]
     Active Substance: ACETAMINOPHEN
     Dosage: 15
     Route: 065
  421. ACETAMINOPHEN [Suspect]
     Active Substance: ACETAMINOPHEN
     Dosage: 2 MG, QD
     Route: 065
  422. ACETAMINOPHEN [Suspect]
     Active Substance: ACETAMINOPHEN
     Dosage: 2 MG
     Route: 065
  423. ACETAMINOPHEN [Suspect]
     Active Substance: ACETAMINOPHEN
     Dosage: 200 MG, QD
     Route: 065
  424. ACETAMINOPHEN [Suspect]
     Active Substance: ACETAMINOPHEN
     Dosage: 200 MG
     Route: 065
  425. ACETAMINOPHEN [Suspect]
     Active Substance: ACETAMINOPHEN
     Dosage: 200 UG, Q12H
     Route: 065
  426. ACETAMINOPHEN [Suspect]
     Active Substance: ACETAMINOPHEN
     Dosage: 360 UG, QD
     Route: 065
  427. ACETAMINOPHEN [Suspect]
     Active Substance: ACETAMINOPHEN
     Dosage: 5 MG, QD
     Route: 065
  428. ACETAMINOPHEN [Suspect]
     Active Substance: ACETAMINOPHEN
     Dosage: 5 MG, Q12H
     Route: 065
  429. ACETAMINOPHEN [Suspect]
     Active Substance: ACETAMINOPHEN
     Indication: Product used for unknown indication
     Dosage: 5 MG, Q8H
     Route: 065
  430. ACETAMINOPHEN [Suspect]
     Active Substance: ACETAMINOPHEN
     Dosage: 5 MG, Q8H
     Route: 065
  431. ACETAMINOPHEN [Suspect]
     Active Substance: ACETAMINOPHEN
     Dosage: 5 MG, BID(10 MG QD)
     Route: 065
  432. ACETAMINOPHEN [Suspect]
     Active Substance: ACETAMINOPHEN
     Dosage: 5 MG, TID(15 MG QD)
     Route: 065
  433. ACETAMINOPHEN [Suspect]
     Active Substance: ACETAMINOPHEN
     Dosage: 5 MG
     Route: 065
  434. ACETAMINOPHEN [Suspect]
     Active Substance: ACETAMINOPHEN
     Dosage: 5 UG, Q12H
     Route: 065
  435. PERPHENAZINE [Suspect]
     Active Substance: PERPHENAZINE
     Indication: Product used for unknown indication
     Dosage: 650 MG, DAILY
     Route: 065
  436. PERSANTINE [Suspect]
     Active Substance: DIPYRIDAMOLE
     Dosage: 1 DF, 1 EVERY  1DAY
     Route: 065
  437. PERSANTINE [Suspect]
     Active Substance: DIPYRIDAMOLE
     Dosage: 1 DF, Q12H
     Route: 065
  438. PERSANTINE [Suspect]
     Active Substance: DIPYRIDAMOLE
     Dosage: 1 DF, UNK (0.5 DAILY)
     Route: 065
  439. PERSANTINE [Suspect]
     Active Substance: DIPYRIDAMOLE
     Dosage: 1 DOSAGE FORM, 1 EVERY 5 DAYS
     Route: 065
  440. PERSANTINE [Suspect]
     Active Substance: DIPYRIDAMOLE
     Dosage: 1 DOSAGE FORM, BID
     Route: 065
  441. PERSANTINE [Suspect]
     Active Substance: DIPYRIDAMOLE
     Dosage: 2 DF, DAILY
     Route: 065
  442. PERSANTINE [Suspect]
     Active Substance: DIPYRIDAMOLE
     Indication: Cerebrovascular accident
     Dosage: 20 MILLIGRAM, DAILY
     Route: 065
  443. PERSANTINE [Suspect]
     Active Substance: DIPYRIDAMOLE
     Dosage: UNK
     Route: 065
  444. PHENOLPHTHALEIN [Suspect]
     Active Substance: PHENOLPHTHALEIN
     Dosage: 0.088 MG, DAILY
     Route: 048
  445. PHENOLPHTHALEIN [Suspect]
     Active Substance: PHENOLPHTHALEIN
     Dosage: 0.09 MG, QD
     Route: 048
  446. PHENOLPHTHALEIN [Suspect]
     Active Substance: PHENOLPHTHALEIN
     Dosage: 0.8 MG, DAILY
     Route: 065
  447. PHENOLPHTHALEIN [Suspect]
     Active Substance: PHENOLPHTHALEIN
     Dosage: 0.88 MG DAILY
     Route: 048
  448. PHENOLPHTHALEIN [Suspect]
     Active Substance: PHENOLPHTHALEIN
     Dosage: 88 MILLIGRAM, DAILY
     Route: 065
  449. PHENOLPHTHALEIN [Suspect]
     Active Substance: PHENOLPHTHALEIN
     Dosage: 88 NANOGRAM, DAILY
     Route: 065
  450. PHENOLPHTHALEIN [Suspect]
     Active Substance: PHENOLPHTHALEIN
     Dosage: UNK, DAILY
     Route: 065
  451. PHENOLPHTHALEIN [Suspect]
     Active Substance: PHENOLPHTHALEIN
     Indication: Product used for unknown indication
     Dosage: UNK
     Route: 065
  452. PHENOLPHTHALEIN [Suspect]
     Active Substance: PHENOLPHTHALEIN
     Dosage: UNK
     Route: 065
  453. DOCUSATE SODIUM\PHENOLPHTHALEIN [Suspect]
     Active Substance: DOCUSATE SODIUM\PHENOLPHTHALEIN
     Indication: Product used for unknown indication
     Dosage: UNK
     Route: 065
  454. PHENYLEPHRINE HYDROCHLORIDE [Suspect]
     Active Substance: PHENYLEPHRINE HYDROCHLORIDE
     Indication: Product used for unknown indication
     Dosage: UNK
     Route: 065
  455. PICOLAX (ANHYDROUS CITRIC ACID\MAGNESIUM OXIDE\SODIUM PICOSULFATE) [Suspect]
     Active Substance: ANHYDROUS CITRIC ACID\MAGNESIUM OXIDE\SODIUM PICOSULFATE
     Indication: Product used for unknown indication
     Dosage: UNK
     Route: 065
  456. HERBALS\PLANTAGO OVATA LEAF [Suspect]
     Active Substance: HERBALS\PLANTAGO OVATA LEAF
     Indication: Constipation
     Dosage: UNK
     Route: 065
  457. POLYSORBATE 20 [Suspect]
     Active Substance: POLYSORBATE 20
     Indication: Product used for unknown indication
     Dosage: UNK
     Route: 065
  458. POLYSORBATE 40 [Suspect]
     Active Substance: POLYSORBATE 40
     Indication: Product used for unknown indication
     Dosage: UNK
     Route: 065
  459. POLYSORBATE 40 [Suspect]
     Active Substance: POLYSORBATE 40
     Dosage: UNK
     Route: 065
  460. POLYSORBATE 80 [Suspect]
     Active Substance: POLYSORBATE 80
     Indication: Product used for unknown indication
     Dosage: UNK
     Route: 065
  461. POLYSORBATE 85 [Suspect]
     Active Substance: POLYSORBATE 85
     Dosage: 1 DF, DAILY
     Route: 065
  462. POLYSORBATE 85 [Suspect]
     Active Substance: POLYSORBATE 85
     Dosage: 2 DF, QD
     Route: 048
  463. POLYSORBATE 85 [Suspect]
     Active Substance: POLYSORBATE 85
     Dosage: 2 DF, UNK
     Route: 065
  464. POLYSORBATE 85 [Suspect]
     Active Substance: POLYSORBATE 85
     Indication: Product used for unknown indication
     Dosage: 2 DF, PRN
     Route: 065
  465. POLYSORBATE 85 [Suspect]
     Active Substance: POLYSORBATE 85
     Dosage: 650 MILLIGRAM, DAILY
     Route: 065
  466. POLYSORBATE 85 [Suspect]
     Active Substance: POLYSORBATE 85
     Dosage: UNK, DAILY
     Route: 065
  467. POLYSORBATE 85 [Suspect]
     Active Substance: POLYSORBATE 85
     Dosage: UNK
     Route: 065
  468. POTASSIUM SORBATE [Suspect]
     Active Substance: POTASSIUM SORBATE
     Indication: Product used for unknown indication
     Dosage: UNK
     Route: 065
  469. POTASSIUM SORBATE [Suspect]
     Active Substance: POTASSIUM SORBATE
     Dosage: UNK
     Route: 065
  470. POTASSIUM SORBATE [Suspect]
     Active Substance: POTASSIUM SORBATE
     Dosage: UNK
     Route: 065
  471. QUINAPRIL [Suspect]
     Active Substance: QUINAPRIL
     Dosage: 20 MG, DAILY
     Route: 048
  472. QUINAPRIL [Suspect]
     Active Substance: QUINAPRIL
     Dosage: 20 MG, QD
     Route: 048
  473. QUINAPRIL [Suspect]
     Active Substance: QUINAPRIL
     Indication: Product used for unknown indication
     Dosage: 20 MG, Q12H
     Route: 048
  474. QUINAPRIL [Suspect]
     Active Substance: QUINAPRIL
     Dosage: UNK
     Route: 048
  475. QUINAPRIL [Suspect]
     Active Substance: QUINAPRIL
     Dosage: UNK
     Route: 048
  476. QUINAPRIL [Suspect]
     Active Substance: QUINAPRIL
     Dosage: UNK
     Route: 048
  477. QUINAPRIL [Suspect]
     Active Substance: QUINAPRIL
     Dosage: UNK
     Route: 065
  478. QUINAPRIL [Suspect]
     Active Substance: QUINAPRIL
     Dosage: UNK
     Route: 065
  479. QUINAPRIL [Suspect]
     Active Substance: QUINAPRIL
     Dosage: 1 DF, DAILY
     Route: 065
  480. QUINAPRIL [Suspect]
     Active Substance: QUINAPRIL
     Indication: Product used for unknown indication
     Dosage: 10 MG, DAILY
     Route: 065
  481. QUINAPRIL [Suspect]
     Active Substance: QUINAPRIL
     Dosage: 10 MG, DAILY
     Route: 065
  482. QUINAPRIL [Suspect]
     Active Substance: QUINAPRIL
     Dosage: 10 MG, UNK
     Route: 065
  483. QUINAPRIL [Suspect]
     Active Substance: QUINAPRIL
     Dosage: 100 MILLIGRAM, DAILY
     Route: 065
  484. QUINAPRIL [Suspect]
     Active Substance: QUINAPRIL
     Dosage: 2 DF, DAILY
     Route: 065
  485. QUINAPRIL [Suspect]
     Active Substance: QUINAPRIL
     Dosage: UNK, DAILY
     Route: 065
  486. QUINAPRIL [Suspect]
     Active Substance: QUINAPRIL
     Dosage: UNK
     Route: 065
  487. QUINAPRIL [Suspect]
     Active Substance: QUINAPRIL
     Dosage: UNK
     Route: 065
  488. QUINAPRIL [Suspect]
     Active Substance: QUINAPRIL
     Dosage: UNK
     Route: 065
  489. QUINAPRIL [Suspect]
     Active Substance: QUINAPRIL
     Dosage: UNK
     Route: 065
  490. QUINAPRIL [Suspect]
     Active Substance: QUINAPRIL
     Dosage: UNK
     Route: 065
  491. QUINAPRIL [Suspect]
     Active Substance: QUINAPRIL
     Dosage: UNK
     Route: 065
  492. QUININE [Suspect]
     Active Substance: QUININE
     Indication: Product used for unknown indication
     Dosage: UNK
     Route: 065
  493. ROSUVASTATIN [Suspect]
     Active Substance: ROSUVASTATIN
     Dosage: 1 DF, BID
     Route: 065
  494. ROSUVASTATIN [Suspect]
     Active Substance: ROSUVASTATIN
     Indication: Product used for unknown indication
     Dosage: UNK
     Route: 065
  495. ROSUVASTATIN [Suspect]
     Active Substance: ROSUVASTATIN
     Dosage: UNK
     Route: 065
  496. ROSUVASTATIN CALCIUM [Suspect]
     Active Substance: ROSUVASTATIN CALCIUM
     Indication: Product used for unknown indication
     Dosage: 100 MG, DAILY
     Route: 065
  497. ROSUVASTATIN CALCIUM [Suspect]
     Active Substance: ROSUVASTATIN CALCIUM
     Dosage: 50 MG, BID
     Route: 065
  498. ROSUVASTATIN CALCIUM [Suspect]
     Active Substance: ROSUVASTATIN CALCIUM
     Dosage: 100 MILLIGRAM, EVERY 1 HOURS
     Route: 065
  499. ROSUVASTATIN CALCIUM [Suspect]
     Active Substance: ROSUVASTATIN CALCIUM
     Dosage: 100 MG, Q12H
     Route: 065
  500. ROSUVASTATIN CALCIUM [Suspect]
     Active Substance: ROSUVASTATIN CALCIUM
     Dosage: 100 MILLIGRAM, EVERY 2 DAYS
     Route: 065
  501. ROSUVASTATIN CALCIUM [Suspect]
     Active Substance: ROSUVASTATIN CALCIUM
     Dosage: 100 MILLIGRAM, EVERY 5 DAYS
     Route: 065
  502. ROSUVASTATIN CALCIUM [Suspect]
     Active Substance: ROSUVASTATIN CALCIUM
     Dosage: 100 MG, UNK (EVERY 4.8 HOURS)
     Route: 065
  503. ROSUVASTATIN CALCIUM [Suspect]
     Active Substance: ROSUVASTATIN CALCIUM
     Dosage: 100 MILLIGRAM, UNK
     Route: 065
  504. ROSUVASTATIN CALCIUM [Suspect]
     Active Substance: ROSUVASTATIN CALCIUM
     Dosage: 200 MG, 5/DAY
     Route: 065
  505. ROSUVASTATIN CALCIUM [Suspect]
     Active Substance: ROSUVASTATIN CALCIUM
     Dosage: 200 MG, 5X/WEEK
     Route: 065
  506. ROSUVASTATIN CALCIUM [Suspect]
     Active Substance: ROSUVASTATIN CALCIUM
     Dosage: 200 MG,2 EVERY 1 WEEK
     Route: 065
  507. ROSUVASTATIN CALCIUM [Suspect]
     Active Substance: ROSUVASTATIN CALCIUM
     Dosage: 100 MG, BID
     Route: 065
  508. ROSUVASTATIN CALCIUM [Suspect]
     Active Substance: ROSUVASTATIN CALCIUM
     Dosage: 200 MG, DAILY
     Route: 065
  509. ROSUVASTATIN CALCIUM [Suspect]
     Active Substance: ROSUVASTATIN CALCIUM
     Dosage: 200 MG, Q12H
     Route: 065
  510. ROSUVASTATIN CALCIUM [Suspect]
     Active Substance: ROSUVASTATIN CALCIUM
     Dosage: 200 MG, Q12H
     Route: 065
  511. ROSUVASTATIN CALCIUM [Suspect]
     Active Substance: ROSUVASTATIN CALCIUM
     Dosage: 200 MG, Q12H
     Route: 065
  512. ROSUVASTATIN CALCIUM [Suspect]
     Active Substance: ROSUVASTATIN CALCIUM
     Dosage: 200 MILLIGRAM, EVERY 5 DAY
     Route: 065
  513. ROSUVASTATIN CALCIUM [Suspect]
     Active Substance: ROSUVASTATIN CALCIUM
     Dosage: 200 MG, UNK
     Route: 065
  514. ROSUVASTATIN CALCIUM [Suspect]
     Active Substance: ROSUVASTATIN CALCIUM
     Dosage: 200 MG, DAILY
     Route: 065
  515. ROSUVASTATIN CALCIUM [Suspect]
     Active Substance: ROSUVASTATIN CALCIUM
     Dosage: 200 MILLIGRAM, 1 EVERY 5 WEEKS
     Route: 065
  516. ROSUVASTATIN CALCIUM [Suspect]
     Active Substance: ROSUVASTATIN CALCIUM
     Dosage: 200 MILLIGRAM, 1/WEEK
     Route: 065
  517. ROSUVASTATIN CALCIUM [Suspect]
     Active Substance: ROSUVASTATIN CALCIUM
     Dosage: 200 MILLIGRAM,1 EVERY 84 HOURS
     Route: 065
  518. ROSUVASTATIN CALCIUM [Suspect]
     Active Substance: ROSUVASTATIN CALCIUM
     Dosage: 400 MG, 1/WEEK
     Route: 065
  519. ROSUVASTATIN CALCIUM [Suspect]
     Active Substance: ROSUVASTATIN CALCIUM
     Dosage: 200 MG, BID
     Route: 065
  520. ROSUVASTATIN CALCIUM [Suspect]
     Active Substance: ROSUVASTATIN CALCIUM
     Dosage: 400 MG, DAILY
     Route: 065
  521. ROSUVASTATIN CALCIUM [Suspect]
     Active Substance: ROSUVASTATIN CALCIUM
     Dosage: 400 MG, DAILY
     Route: 065
  522. ROSUVASTATIN CALCIUM [Suspect]
     Active Substance: ROSUVASTATIN CALCIUM
     Dosage: 50 MILLIGRAM, DAILY (1 EVERY 1 DAYS)
     Route: 065
  523. ROSUVASTATIN CALCIUM [Suspect]
     Active Substance: ROSUVASTATIN CALCIUM
     Dosage: 50 MG, 2 EVERY 2 DAYS
     Route: 065
  524. ROSUVASTATIN CALCIUM [Suspect]
     Active Substance: ROSUVASTATIN CALCIUM
     Dosage: 500 MILLIGRAM, DAILY
     Route: 065
  525. ROSUVASTATIN CALCIUM [Suspect]
     Active Substance: ROSUVASTATIN CALCIUM
     Dosage: 200 MG, 5X/WEEK
     Route: 065
  526. ROSUVASTATIN CALCIUM [Suspect]
     Active Substance: ROSUVASTATIN CALCIUM
     Dosage: 400 MILLIGRAM, BID(1 EVERY 12HOURS)
     Route: 065
  527. ROSUVASTATIN CALCIUM [Suspect]
     Active Substance: ROSUVASTATIN CALCIUM
     Dosage: UNK
     Route: 065
  528. ROSUVASTATIN CALCIUM [Suspect]
     Active Substance: ROSUVASTATIN CALCIUM
     Dosage: UNK
     Route: 065
  529. ALBUTEROL [Suspect]
     Active Substance: ALBUTEROL
     Dosage: 100 MG, DAILY
     Route: 065
  530. ALBUTEROL [Suspect]
     Active Substance: ALBUTEROL
     Dosage: 100 MILLIGRAM,1 EVERY 6HOURS
     Route: 065
  531. ALBUTEROL [Suspect]
     Active Substance: ALBUTEROL
     Dosage: 100 MG, UNK
     Route: 065
  532. ALBUTEROL [Suspect]
     Active Substance: ALBUTEROL
     Dosage: 100 MCG, DAILY (100 MCG PER INHALATION DAILY)
     Route: 055
  533. ALBUTEROL [Suspect]
     Active Substance: ALBUTEROL
     Dosage: 100 MCG, UNK
     Route: 065
  534. ALBUTEROL [Suspect]
     Active Substance: ALBUTEROL
     Dosage: 200 MG, Q8H
     Route: 065
  535. ALBUTEROL [Suspect]
     Active Substance: ALBUTEROL
     Dosage: 200 MILLIGRAM,4 EVERY 1 DAY
     Route: 065
  536. ALBUTEROL [Suspect]
     Active Substance: ALBUTEROL
     Dosage: 200 MCG, Q6H
     Route: 065
  537. ALBUTEROL [Suspect]
     Active Substance: ALBUTEROL
     Dosage: 400 MG, DAILY
     Route: 065
  538. ALBUTEROL [Suspect]
     Active Substance: ALBUTEROL
     Dosage: 400 MG, Q6H
     Route: 065
  539. ALBUTEROL [Suspect]
     Active Substance: ALBUTEROL
     Dosage: 200 MCG, BID
     Route: 055
  540. ALBUTEROL [Suspect]
     Active Substance: ALBUTEROL
     Indication: Product used for unknown indication
     Dosage: TABLET 400 MICROGRAM,1 EVERY 6HOURS
     Route: 065
  541. ALBUTEROL [Suspect]
     Active Substance: ALBUTEROL
     Dosage: 800 MILLIGRAM, DAILY
     Route: 065
  542. ALBUTEROL [Suspect]
     Active Substance: ALBUTEROL
     Dosage: 200 MG, QID
     Route: 065
  543. ALBUTEROL [Suspect]
     Active Substance: ALBUTEROL
     Dosage: UNK, QID
     Route: 065
  544. ALBUTEROL SULFATE [Suspect]
     Active Substance: ALBUTEROL SULFATE
     Indication: Product used for unknown indication
     Dosage: 100 MG, DAILY
     Route: 065
  545. ALBUTEROL SULFATE [Suspect]
     Active Substance: ALBUTEROL SULFATE
     Dosage: 200 MG, Q6H
     Route: 065
  546. ALBUTEROL SULFATE [Suspect]
     Active Substance: ALBUTEROL SULFATE
     Dosage: 200 MCG, Q6H
     Route: 065
  547. ALBUTEROL SULFATE [Suspect]
     Active Substance: ALBUTEROL SULFATE
     Dosage: 400 MG, Q6H
     Route: 065
  548. ALBUTEROL SULFATE [Suspect]
     Active Substance: ALBUTEROL SULFATE
     Dosage: UNK
     Route: 065
  549. SALICYLAMIDE [Suspect]
     Active Substance: SALICYLAMIDE
     Indication: Pain
     Dosage: UNK
     Route: 065
  550. SENNOSIDES A AND B [Suspect]
     Active Substance: SENNOSIDES A AND B
     Indication: Product used for unknown indication
     Dosage: UNK
     Route: 065
  551. SENNOSIDES A AND B [Suspect]
     Active Substance: SENNOSIDES A AND B
     Dosage: UNK
     Route: 065
  552. SODIUM PICOSULFATE [Suspect]
     Active Substance: SODIUM PICOSULFATE
     Indication: Product used for unknown indication
     Dosage: UNK
     Route: 065
  553. SPIRIVA [Suspect]
     Active Substance: TIOTROPIUM BROMIDE MONOHYDRATE
     Indication: Product used for unknown indication
     Dosage: 18 MG, DAILY
     Route: 065
  554. SPIRIVA [Suspect]
     Active Substance: TIOTROPIUM BROMIDE MONOHYDRATE
     Dosage: UNK
     Route: 065
  555. TIOTROPIUM BROMIDE [Suspect]
     Active Substance: TIOTROPIUM BROMIDE
     Dosage: 18 MG, DAILY
     Route: 065
  556. TIOTROPIUM BROMIDE [Suspect]
     Active Substance: TIOTROPIUM BROMIDE
     Indication: Product used for unknown indication
     Dosage: 18 MG, UNK
     Route: 065
  557. TIOTROPIUM BROMIDE [Suspect]
     Active Substance: TIOTROPIUM BROMIDE
     Dosage: 18 MG, UNK
     Route: 065
  558. TIOTROPIUM BROMIDE [Suspect]
     Active Substance: TIOTROPIUM BROMIDE
     Dosage: 18 MCG, DAILY
     Route: 065
  559. TIOTROPIUM BROMIDE [Suspect]
     Active Substance: TIOTROPIUM BROMIDE
     Dosage: 5 MG, DAILY
     Route: 065
  560. TIOTROPIUM BROMIDE [Suspect]
     Active Substance: TIOTROPIUM BROMIDE
     Dosage: UNK
     Route: 048
  561. TIOTROPIUM BROMIDE [Suspect]
     Active Substance: TIOTROPIUM BROMIDE
     Dosage: UNK
     Route: 065
  562. TIOTROPIUM BROMIDE [Suspect]
     Active Substance: TIOTROPIUM BROMIDE
     Dosage: UNK
     Route: 065
  563. TIOTROPIUM BROMIDE MONOHYDRATE [Suspect]
     Active Substance: TIOTROPIUM BROMIDE MONOHYDRATE
     Dosage: 0.4 MG UNK
     Route: 065
  564. TIOTROPIUM BROMIDE MONOHYDRATE [Suspect]
     Active Substance: TIOTROPIUM BROMIDE MONOHYDRATE
     Dosage: 0.4 DOSAGE FORM, DAILY
     Route: 061
  565. TIOTROPIUM BROMIDE MONOHYDRATE [Suspect]
     Active Substance: TIOTROPIUM BROMIDE MONOHYDRATE
     Dosage: 0.6 MG, DAILY
     Route: 061
  566. TIOTROPIUM BROMIDE MONOHYDRATE [Suspect]
     Active Substance: TIOTROPIUM BROMIDE MONOHYDRATE
     Dosage: 0.6 MG, Q1H
     Route: 061
  567. TIOTROPIUM BROMIDE MONOHYDRATE [Suspect]
     Active Substance: TIOTROPIUM BROMIDE MONOHYDRATE
     Dosage: 0.6 MG, UNK
     Route: 065
  568. TIOTROPIUM BROMIDE MONOHYDRATE [Suspect]
     Active Substance: TIOTROPIUM BROMIDE MONOHYDRATE
     Indication: Product used for unknown indication
     Dosage: 1 DOSAGE FORM, DAILY
     Route: 061
  569. TIOTROPIUM BROMIDE MONOHYDRATE [Suspect]
     Active Substance: TIOTROPIUM BROMIDE MONOHYDRATE
     Dosage: 20 MILLIGRAM
     Route: 065
  570. TIOTROPIUM BROMIDE MONOHYDRATE [Suspect]
     Active Substance: TIOTROPIUM BROMIDE MONOHYDRATE
     Dosage: 6 MG, QD
     Route: 061
  571. TIOTROPIUM BROMIDE MONOHYDRATE [Suspect]
     Active Substance: TIOTROPIUM BROMIDE MONOHYDRATE
     Dosage: UNK, DAILY
     Route: 065
  572. TIOTROPIUM BROMIDE MONOHYDRATE [Suspect]
     Active Substance: TIOTROPIUM BROMIDE MONOHYDRATE
     Dosage: 1 DOSAGE FORM,TOTAL
     Route: 065
  573. TIOTROPIUM BROMIDE MONOHYDRATE [Suspect]
     Active Substance: TIOTROPIUM BROMIDE MONOHYDRATE
     Dosage: UNK
     Route: 065
  574. AMITRIPTYLINE HYDROCHLORIDE\PERPHENAZINE [Suspect]
     Active Substance: AMITRIPTYLINE HYDROCHLORIDE\PERPHENAZINE
     Indication: Product used for unknown indication
     Dosage: UNK
     Route: 065
  575. CRANBERRY [Suspect]
     Active Substance: CRANBERRY
     Indication: Product used for unknown indication
     Dosage: UNK, QD
     Route: 065
  576. CRANBERRY [Suspect]
     Active Substance: CRANBERRY
     Dosage: 1 DOSAGE FORM, DAILY
     Route: 065
  577. CRANBERRY [Suspect]
     Active Substance: CRANBERRY
     Dosage: 15 MILLIGRAM, DAILY
     Route: 042
  578. CRANBERRY [Suspect]
     Active Substance: CRANBERRY
     Dosage: 300 MILLIGRAM, DAILY
     Route: 065
  579. CRANBERRY [Suspect]
     Active Substance: CRANBERRY
     Dosage: 36 MILLIGRAM, DAILY
     Route: 042
  580. CRANBERRY [Suspect]
     Active Substance: CRANBERRY
     Indication: Product used for unknown indication
     Dosage: 360 MILLIGRAM, DAILY
     Route: 042
  581. CRANBERRY [Suspect]
     Active Substance: CRANBERRY
     Dosage: 40 MILLIGRAM, DAILY
     Route: 065
  582. CRANBERRY [Suspect]
     Active Substance: CRANBERRY
     Dosage: 500 MILLIGRAM, DAILY
     Route: 065
  583. CRANBERRY [Suspect]
     Active Substance: CRANBERRY
     Dosage: 500 MG, BID
     Route: 065
  584. CRANBERRY [Suspect]
     Active Substance: CRANBERRY
     Dosage: 500 MG, 1 EVERY 2 DAYS
     Route: 065
  585. CRANBERRY [Suspect]
     Active Substance: CRANBERRY
     Dosage: 500 MG, CYCLICAL
     Route: 065
  586. CRANBERRY [Suspect]
     Active Substance: CRANBERRY
     Dosage: 500 MG,DAILY
     Route: 065
  587. CRANBERRY [Suspect]
     Active Substance: CRANBERRY
     Indication: Product used for unknown indication
     Dosage: UNK
     Route: 065
  588. ZINC [Suspect]
     Active Substance: PYRITHIONE ZINC\ZINC\ZINC CHLORIDE
     Indication: Product used for unknown indication
     Dosage: 100 MG, BID
     Route: 065
  589. ZINC [Suspect]
     Active Substance: PYRITHIONE ZINC\ZINC\ZINC CHLORIDE
     Dosage: 100 MG
     Route: 065
  590. ZINC [Suspect]
     Active Substance: PYRITHIONE ZINC\ZINC\ZINC CHLORIDE
     Dosage: 200 MG, Q12H
     Route: 065
  591. ZINC [Suspect]
     Active Substance: PYRITHIONE ZINC\ZINC\ZINC CHLORIDE
     Dosage: 200 MG, BID(400 MG,QD)
     Route: 065
  592. ZINC [Suspect]
     Active Substance: PYRITHIONE ZINC\ZINC\ZINC CHLORIDE
     Dosage: 200 MG
     Route: 065
  593. ZINC [Suspect]
     Active Substance: PYRITHIONE ZINC\ZINC\ZINC CHLORIDE
     Dosage: 200 MG, 0.5 DAY
     Route: 065
  594. ZINC [Suspect]
     Active Substance: PYRITHIONE ZINC\ZINC\ZINC CHLORIDE
     Dosage: 400 MG, QD
     Route: 065
  595. ZINC [Suspect]
     Active Substance: PYRITHIONE ZINC\ZINC\ZINC CHLORIDE
     Dosage: 2 UNK, QD
     Route: 065
  596. ZINC [Suspect]
     Active Substance: PYRITHIONE ZINC\ZINC\ZINC CHLORIDE
     Dosage: UNK
     Route: 065
  597. ATROPINE [Suspect]
     Active Substance: ATROPINE\ATROPINE SULFATE
  598. NITROGLYCERIN [Suspect]
     Active Substance: NITROGLYCERIN
  599. PAPAVERINE [Suspect]
     Active Substance: PAPAVERINE
  600. PHENOBARBITAL [Suspect]
     Active Substance: PHENOBARBITAL

REACTIONS (4)
  - Pain [Recovered/Resolved]
  - Depressed level of consciousness [Recovered/Resolved]
  - Sedation complication [Recovered/Resolved]
  - Hypotension [Recovered/Resolved]
